FAERS Safety Report 23432740 (Version 28)
Quarter: 2025Q1

REPORT INFORMATION
  Report Type: Spontaneous
  Country: GB (occurrence: GB)
  Receive Date: 20240123
  Receipt Date: 20250329
  Transmission Date: 20250409
  Serious: Yes (Death, Hospitalization, Other)
  Sender: CELLTRION
  Company Number: GB-CELLTRION INC.-2022GB022451

PATIENT

DRUGS (1128)
  1. TRASTUZUMAB [Suspect]
     Active Substance: TRASTUZUMAB
     Indication: Breast cancer metastatic
     Dosage: 609 MG, 2/W, (CUMULATIVE DOSE OF FIRST REACTION: 5575.25 MG)
     Route: 042
     Dates: start: 20150930
  2. TRASTUZUMAB [Suspect]
     Active Substance: TRASTUZUMAB
     Route: 042
     Dates: start: 20150930
  3. TRASTUZUMAB [Suspect]
     Active Substance: TRASTUZUMAB
     Route: 042
     Dates: start: 20150930
  4. TRASTUZUMAB [Suspect]
     Active Substance: TRASTUZUMAB
     Dosage: 609 MILLIGRAM, Q3W (1799.20 MG)/30-SEP-2015/ 609 MILLIGRAM, Q2WK (ADDITIONAL INFORMATION ON DRUG (FR
     Route: 042
     Dates: start: 20150930
  5. TRASTUZUMAB [Suspect]
     Active Substance: TRASTUZUMAB
     Dosage: 1218 MILLIGRAM, QWK (609MG, 2/W)
     Route: 042
     Dates: start: 20150930
  6. TRASTUZUMAB [Suspect]
     Active Substance: TRASTUZUMAB
     Route: 042
     Dates: start: 20150930
  7. TRASTUZUMAB [Suspect]
     Active Substance: TRASTUZUMAB
     Dosage: 1218 MG
     Route: 065
     Dates: start: 20151130
  8. TRASTUZUMAB [Suspect]
     Active Substance: TRASTUZUMAB
     Dosage: 609 MG, 609 MILLIGRAM, Q3WK (34482.207 MG)
  9. TRASTUZUMAB [Suspect]
     Active Substance: TRASTUZUMAB
     Dosage: 1218 MILLIGRAM, QWK (206893.25 MG)
     Route: 042
     Dates: start: 20150930
  10. TRASTUZUMAB [Suspect]
     Active Substance: TRASTUZUMAB
     Dates: start: 20150930
  11. TRASTUZUMAB [Suspect]
     Active Substance: TRASTUZUMAB
     Dosage: 1218 MG, QWK (CUMULATIVE DOSE:5575.25 MG), (ADDITIONAL INFORMATION ON DRUG (FREE TEXT): CLOZARIL ADD
     Route: 042
     Dates: start: 20150930
  12. TRASTUZUMAB [Suspect]
     Active Substance: TRASTUZUMAB
     Route: 042
     Dates: start: 20150930
  13. TRASTUZUMAB [Suspect]
     Active Substance: TRASTUZUMAB
     Route: 065
  14. TRASTUZUMAB [Suspect]
     Active Substance: TRASTUZUMAB
     Dates: start: 20150930
  15. TRASTUZUMAB [Suspect]
     Active Substance: TRASTUZUMAB
     Dosage: 609 MG, 2/W
     Route: 042
     Dates: start: 20150930
  16. TRASTUZUMAB [Suspect]
     Active Substance: TRASTUZUMAB
     Route: 065
  17. TRASTUZUMAB [Suspect]
     Active Substance: TRASTUZUMAB
     Route: 065
     Dates: start: 20150930
  18. TRASTUZUMAB [Suspect]
     Active Substance: TRASTUZUMAB
     Route: 042
     Dates: start: 20150930
  19. TRASTUZUMAB [Suspect]
     Active Substance: TRASTUZUMAB
     Route: 065
     Dates: start: 20150930
  20. TRASTUZUMAB [Suspect]
     Active Substance: TRASTUZUMAB
     Route: 065
     Dates: start: 20150930
  21. TRASTUZUMAB [Suspect]
     Active Substance: TRASTUZUMAB
     Route: 065
  22. TRASTUZUMAB [Suspect]
     Active Substance: TRASTUZUMAB
     Route: 065
  23. TRASTUZUMAB [Suspect]
     Active Substance: TRASTUZUMAB
     Dosage: 1827 MG, QWK (CUMULATIVE DOSE TO FIRST REACTION: 8362.875 MG), (ADDITIONAL INFORMATION ON DRUG (FREE
     Route: 065
     Dates: start: 20150930
  24. TRASTUZUMAB [Suspect]
     Active Substance: TRASTUZUMAB
     Route: 065
     Dates: start: 20150930
  25. TRASTUZUMAB [Suspect]
     Active Substance: TRASTUZUMAB
     Dosage: 1218 MILLIGRAM, WEEKLY
     Route: 042
     Dates: start: 20150930
  26. TRASTUZUMAB [Suspect]
     Active Substance: TRASTUZUMAB
     Dosage: 609 MILLIGRAM, Q2WK (CUMULATIVE DOSE TO FIRST REACTION: 1393.8125 MG), (ADDITIONAL INFORMATION ON DR
     Route: 042
     Dates: start: 20150930
  27. TRASTUZUMAB [Suspect]
     Active Substance: TRASTUZUMAB
     Dosage: 609 MILLIGRAM, Q2WK (ADDITIONAL INFORMATION ON DRUG (FREE TEXT): CLOZARIL ADDITIONAL INFO: OFF LABEL
     Route: 042
     Dates: start: 20150930
  28. TRASTUZUMAB [Suspect]
     Active Substance: TRASTUZUMAB
     Route: 065
     Dates: start: 20150930
  29. TRASTUZUMAB [Suspect]
     Active Substance: TRASTUZUMAB
     Route: 065
     Dates: start: 20151130
  30. TRASTUZUMAB [Suspect]
     Active Substance: TRASTUZUMAB
     Dosage: 1218 MILLIGRAM, QWK (ADDITIONAL INFORMATION ON DRUG (FREE TEXT): CLOZARIL ADDITIONAL INFO: OFF LABEL
     Route: 065
     Dates: start: 20150930
  31. TRASTUZUMAB [Suspect]
     Active Substance: TRASTUZUMAB
     Dosage: 1827 MILLIGRAM, QWK (ADDITIONAL INFORMATION ON DRUG (FREE TEXT): CLOZARIL ADDITIONAL INFO: OFF LABEL
     Route: 065
     Dates: start: 20150930
  32. TRASTUZUMAB [Suspect]
     Active Substance: TRASTUZUMAB
     Route: 065
     Dates: start: 20150930
  33. TRASTUZUMAB [Suspect]
     Active Substance: TRASTUZUMAB
     Route: 065
  34. TRASTUZUMAB [Suspect]
     Active Substance: TRASTUZUMAB
     Dosage: 1218 MILLIGRAM, QWK (ADDITIONAL INFORMATION ON DRUG (FREE TEXT): CLOZARIL ADDITIONAL INFO: OFF LABEL
     Route: 042
     Dates: start: 20150930
  35. TRASTUZUMAB [Suspect]
     Active Substance: TRASTUZUMAB
     Route: 042
     Dates: start: 20150930
  36. TRASTUZUMAB [Suspect]
     Active Substance: TRASTUZUMAB
     Dates: start: 20150930
  37. TRASTUZUMAB [Suspect]
     Active Substance: TRASTUZUMAB
     Dosage: 609 MG, 2/W
     Dates: start: 20150930
  38. TRASTUZUMAB [Suspect]
     Active Substance: TRASTUZUMAB
     Dosage: 609 MG, BIW (1799.20 MG) (CUMULATIVE DOSE TO FIRST REACTION: 2742.3125 MG)
     Route: 042
     Dates: start: 20150930
  39. TRASTUZUMAB [Suspect]
     Active Substance: TRASTUZUMAB
     Dosage: 1827 MILLIGRAM
     Route: 065
     Dates: start: 20150930
  40. TRASTUZUMAB [Suspect]
     Active Substance: TRASTUZUMAB
     Dosage: 1218 MILLIGRAM
     Route: 065
     Dates: start: 20150930
  41. TRASTUZUMAB [Suspect]
     Active Substance: TRASTUZUMAB
     Dosage: 1218 MG, QWK (CUMULATIVE DOSE:5575.25 MG), (ADDITIONAL INFORMATION ON DRUG (FREE TEXT): CLOZARIL ADD
     Route: 065
     Dates: start: 20150930
  42. TRASTUZUMAB [Suspect]
     Active Substance: TRASTUZUMAB
     Dosage: 1827 MILLIGRAM, QWK
     Dates: start: 20150930
  43. TRASTUZUMAB [Suspect]
     Active Substance: TRASTUZUMAB
     Route: 065
     Dates: start: 20150930
  44. TRASTUZUMAB [Suspect]
     Active Substance: TRASTUZUMAB
     Route: 042
     Dates: start: 20150930
  45. TRASTUZUMAB [Suspect]
     Active Substance: TRASTUZUMAB
     Route: 065
     Dates: start: 20151130
  46. TRASTUZUMAB [Suspect]
     Active Substance: TRASTUZUMAB
  47. TRASTUZUMAB [Suspect]
     Active Substance: TRASTUZUMAB
     Dates: start: 20150930
  48. TRASTUZUMAB [Suspect]
     Active Substance: TRASTUZUMAB
     Dosage: 1218 MG (CUMULATIVE DOSE: 8362.875 MG)/1218 MILLIGRAM, QWK
     Route: 065
     Dates: start: 20150930
  49. TRASTUZUMAB [Suspect]
     Active Substance: TRASTUZUMAB
     Route: 065
  50. TRASTUZUMAB [Suspect]
     Active Substance: TRASTUZUMAB
     Route: 065
  51. TRASTUZUMAB [Suspect]
     Active Substance: TRASTUZUMAB
     Indication: Breast cancer metastatic
     Route: 065
     Dates: start: 20150930
  52. TRASTUZUMAB [Suspect]
     Active Substance: TRASTUZUMAB
     Dosage: 1827 MILLIGRAM, QWK (CUMULATIVE DOSE: 8362.875 MG)
     Route: 065
     Dates: start: 20150930
  53. TRASTUZUMAB [Suspect]
     Active Substance: TRASTUZUMAB
     Route: 042
     Dates: start: 20150930
  54. TRASTUZUMAB [Suspect]
     Active Substance: TRASTUZUMAB
     Dosage: 1218 MILLIGRAM, QWK
     Route: 042
     Dates: start: 20150930
  55. TRASTUZUMAB [Suspect]
     Active Substance: TRASTUZUMAB
     Route: 065
     Dates: start: 20150930
  56. TRASTUZUMAB [Suspect]
     Active Substance: TRASTUZUMAB
     Dosage: 1827 MG, 1/WEEK (609 MG, 3/W, CUMULATIVE DOSE TO FIRST REACTION: 8362.875 MG, ADDITIONAL INFORMATION
     Route: 042
     Dates: start: 20150930
  57. TRASTUZUMAB [Suspect]
     Active Substance: TRASTUZUMAB
     Route: 065
  58. TRASTUZUMAB [Suspect]
     Active Substance: TRASTUZUMAB
     Route: 042
  59. TRASTUZUMAB [Suspect]
     Active Substance: TRASTUZUMAB
     Dates: start: 20150930
  60. TRASTUZUMAB [Suspect]
     Active Substance: TRASTUZUMAB
  61. TRASTUZUMAB [Suspect]
     Active Substance: TRASTUZUMAB
     Dates: start: 20150930
  62. TRASTUZUMAB [Suspect]
     Active Substance: TRASTUZUMAB
     Route: 065
     Dates: start: 20150930
  63. TRASTUZUMAB [Suspect]
     Active Substance: TRASTUZUMAB
     Route: 065
  64. TRASTUZUMAB [Suspect]
     Active Substance: TRASTUZUMAB
     Route: 042
     Dates: start: 20150930
  65. TRASTUZUMAB [Suspect]
     Active Substance: TRASTUZUMAB
     Route: 042
     Dates: start: 20150930
  66. TRASTUZUMAB [Suspect]
     Active Substance: TRASTUZUMAB
     Dates: start: 20151130
  67. TRASTUZUMAB [Suspect]
     Active Substance: TRASTUZUMAB
     Route: 042
     Dates: start: 20150930
  68. TRASTUZUMAB [Suspect]
     Active Substance: TRASTUZUMAB
     Dosage: 1218 MG, WE (609 MG, 2/W)
     Dates: start: 20150930
  69. TRASTUZUMAB [Suspect]
     Active Substance: TRASTUZUMAB
     Route: 042
     Dates: start: 20150930
  70. TRASTUZUMAB [Suspect]
     Active Substance: TRASTUZUMAB
  71. TRASTUZUMAB [Suspect]
     Active Substance: TRASTUZUMAB
     Dosage: 1218 MG, WE
     Route: 050
     Dates: start: 20150930
  72. TRASTUZUMAB [Suspect]
     Active Substance: TRASTUZUMAB
     Dosage: 1827 MG, QWK
     Route: 065
     Dates: start: 20150930
  73. TRASTUZUMAB [Suspect]
     Active Substance: TRASTUZUMAB
     Route: 065
     Dates: start: 20150930
  74. TRASTUZUMAB [Suspect]
     Active Substance: TRASTUZUMAB
     Dosage: 420 MILLIGRAM, QWK (420 MILLIGRAM, QWK (1827 MG QWK) (WE (609 MG, 3/W) /INTRAVENOUS (NOT OTHERWISE S
     Route: 042
     Dates: start: 20150930
  75. TRASTUZUMAB [Suspect]
     Active Substance: TRASTUZUMAB
     Route: 050
     Dates: start: 20150930
  76. TRASTUZUMAB [Suspect]
     Active Substance: TRASTUZUMAB
     Dosage: 1827 MG, 1/WEEK
     Route: 042
     Dates: start: 20230930
  77. HALOPERIDOL [Suspect]
     Active Substance: HALOPERIDOL
     Indication: Schizophrenia
     Route: 048
  78. HALOPERIDOL [Suspect]
     Active Substance: HALOPERIDOL
     Route: 048
  79. HALOPERIDOL [Suspect]
     Active Substance: HALOPERIDOL
     Route: 048
  80. HALOPERIDOL [Suspect]
     Active Substance: HALOPERIDOL
     Route: 048
  81. HALOPERIDOL [Suspect]
     Active Substance: HALOPERIDOL
     Route: 048
  82. HALOPERIDOL [Suspect]
     Active Substance: HALOPERIDOL
     Route: 048
  83. HALOPERIDOL [Suspect]
     Active Substance: HALOPERIDOL
     Route: 048
  84. HALOPERIDOL [Suspect]
     Active Substance: HALOPERIDOL
     Route: 048
  85. HALOPERIDOL [Suspect]
     Active Substance: HALOPERIDOL
     Route: 048
  86. HALOPERIDOL [Suspect]
     Active Substance: HALOPERIDOL
     Route: 048
  87. HALOPERIDOL [Suspect]
     Active Substance: HALOPERIDOL
     Route: 048
  88. HALOPERIDOL [Suspect]
     Active Substance: HALOPERIDOL
  89. HALOPERIDOL [Suspect]
     Active Substance: HALOPERIDOL
     Route: 048
  90. HALOPERIDOL [Suspect]
     Active Substance: HALOPERIDOL
     Route: 065
  91. HALOPERIDOL [Suspect]
     Active Substance: HALOPERIDOL
     Route: 048
  92. HALOPERIDOL [Suspect]
     Active Substance: HALOPERIDOL
     Route: 048
  93. HALOPERIDOL [Suspect]
     Active Substance: HALOPERIDOL
     Route: 065
  94. HALOPERIDOL [Suspect]
     Active Substance: HALOPERIDOL
     Route: 048
  95. HALOPERIDOL [Suspect]
     Active Substance: HALOPERIDOL
     Route: 048
  96. HALOPERIDOL [Suspect]
     Active Substance: HALOPERIDOL
     Route: 048
  97. HALOPERIDOL [Suspect]
     Active Substance: HALOPERIDOL
     Route: 048
  98. HALOPERIDOL [Suspect]
     Active Substance: HALOPERIDOL
     Route: 048
  99. HALOPERIDOL [Suspect]
     Active Substance: HALOPERIDOL
     Route: 048
  100. HALOPERIDOL [Suspect]
     Active Substance: HALOPERIDOL
     Route: 048
  101. HALOPERIDOL [Suspect]
     Active Substance: HALOPERIDOL
     Route: 048
  102. HALOPERIDOL [Suspect]
     Active Substance: HALOPERIDOL
     Route: 048
  103. HALOPERIDOL [Suspect]
     Active Substance: HALOPERIDOL
     Route: 048
  104. HALOPERIDOL [Suspect]
     Active Substance: HALOPERIDOL
  105. HALOPERIDOL [Suspect]
     Active Substance: HALOPERIDOL
     Route: 048
  106. HALOPERIDOL [Suspect]
     Active Substance: HALOPERIDOL
     Route: 048
  107. HALOPERIDOL [Suspect]
     Active Substance: HALOPERIDOL
     Route: 048
  108. HALOPERIDOL [Suspect]
     Active Substance: HALOPERIDOL
     Route: 048
  109. HALOPERIDOL [Suspect]
     Active Substance: HALOPERIDOL
     Route: 048
  110. HALOPERIDOL [Suspect]
     Active Substance: HALOPERIDOL
  111. HALOPERIDOL [Suspect]
     Active Substance: HALOPERIDOL
  112. HALOPERIDOL [Suspect]
     Active Substance: HALOPERIDOL
     Route: 048
  113. HALOPERIDOL [Suspect]
     Active Substance: HALOPERIDOL
     Route: 048
  114. HALOPERIDOL [Suspect]
     Active Substance: HALOPERIDOL
  115. HALOPERIDOL [Suspect]
     Active Substance: HALOPERIDOL
  116. HALOPERIDOL [Suspect]
     Active Substance: HALOPERIDOL
     Route: 048
  117. HALOPERIDOL [Suspect]
     Active Substance: HALOPERIDOL
     Route: 048
  118. HALOPERIDOL [Suspect]
     Active Substance: HALOPERIDOL
     Route: 048
  119. HALOPERIDOL [Suspect]
     Active Substance: HALOPERIDOL
     Route: 048
  120. HALOPERIDOL [Suspect]
     Active Substance: HALOPERIDOL
     Route: 048
  121. HALOPERIDOL [Suspect]
     Active Substance: HALOPERIDOL
     Route: 048
  122. HALOPERIDOL [Suspect]
     Active Substance: HALOPERIDOL
     Route: 048
  123. HALOPERIDOL [Suspect]
     Active Substance: HALOPERIDOL
     Route: 048
  124. HALOPERIDOL [Suspect]
     Active Substance: HALOPERIDOL
     Route: 048
  125. HALOPERIDOL [Suspect]
     Active Substance: HALOPERIDOL
     Route: 048
  126. HALOPERIDOL [Suspect]
     Active Substance: HALOPERIDOL
     Route: 048
  127. HALOPERIDOL [Suspect]
     Active Substance: HALOPERIDOL
     Indication: Schizophrenia
     Route: 048
  128. HALOPERIDOL [Suspect]
     Active Substance: HALOPERIDOL
     Indication: Schizophrenia
     Route: 048
  129. HALOPERIDOL [Suspect]
     Active Substance: HALOPERIDOL
     Route: 048
  130. HALOPERIDOL [Suspect]
     Active Substance: HALOPERIDOL
     Route: 048
  131. HALOPERIDOL [Suspect]
     Active Substance: HALOPERIDOL
     Route: 048
  132. HALOPERIDOL [Suspect]
     Active Substance: HALOPERIDOL
     Route: 048
  133. HALOPERIDOL [Suspect]
     Active Substance: HALOPERIDOL
  134. HALOPERIDOL [Suspect]
     Active Substance: HALOPERIDOL
     Route: 065
  135. HALOPERIDOL [Suspect]
     Active Substance: HALOPERIDOL
     Route: 048
  136. HALOPERIDOL [Suspect]
     Active Substance: HALOPERIDOL
     Route: 048
  137. HALOPERIDOL [Suspect]
     Active Substance: HALOPERIDOL
     Route: 048
  138. HALOPERIDOL [Suspect]
     Active Substance: HALOPERIDOL
     Route: 048
  139. HALOPERIDOL [Suspect]
     Active Substance: HALOPERIDOL
  140. HALOPERIDOL [Suspect]
     Active Substance: HALOPERIDOL
     Route: 048
  141. HALOPERIDOL [Suspect]
     Active Substance: HALOPERIDOL
  142. HALOPERIDOL [Suspect]
     Active Substance: HALOPERIDOL
     Route: 065
  143. HALOPERIDOL [Suspect]
     Active Substance: HALOPERIDOL
  144. HALOPERIDOL [Suspect]
     Active Substance: HALOPERIDOL
     Route: 048
  145. HALOPERIDOL [Suspect]
     Active Substance: HALOPERIDOL
     Route: 048
  146. HALOPERIDOL [Suspect]
     Active Substance: HALOPERIDOL
     Route: 048
  147. HALOPERIDOL [Suspect]
     Active Substance: HALOPERIDOL
  148. HALOPERIDOL [Suspect]
     Active Substance: HALOPERIDOL
     Route: 048
  149. HALOPERIDOL [Suspect]
     Active Substance: HALOPERIDOL
     Route: 048
  150. HALOPERIDOL [Suspect]
     Active Substance: HALOPERIDOL
     Route: 048
  151. HALOPERIDOL [Suspect]
     Active Substance: HALOPERIDOL
     Route: 048
  152. HALOPERIDOL [Suspect]
     Active Substance: HALOPERIDOL
     Route: 048
  153. HALOPERIDOL [Suspect]
     Active Substance: HALOPERIDOL
     Route: 048
  154. HALOPERIDOL [Suspect]
     Active Substance: HALOPERIDOL
     Route: 065
  155. HALOPERIDOL [Suspect]
     Active Substance: HALOPERIDOL
     Route: 065
  156. HALOPERIDOL [Suspect]
     Active Substance: HALOPERIDOL
     Route: 048
  157. HALOPERIDOL [Suspect]
     Active Substance: HALOPERIDOL
     Route: 048
  158. HALOPERIDOL [Suspect]
     Active Substance: HALOPERIDOL
     Route: 048
  159. HALOPERIDOL [Suspect]
     Active Substance: HALOPERIDOL
     Route: 048
  160. HALOPERIDOL [Suspect]
     Active Substance: HALOPERIDOL
     Route: 065
  161. HALOPERIDOL [Suspect]
     Active Substance: HALOPERIDOL
     Route: 048
  162. HALOPERIDOL [Suspect]
     Active Substance: HALOPERIDOL
     Route: 065
  163. HALOPERIDOL [Suspect]
     Active Substance: HALOPERIDOL
     Route: 065
  164. HALOPERIDOL [Suspect]
     Active Substance: HALOPERIDOL
     Route: 065
  165. HALOPERIDOL [Suspect]
     Active Substance: HALOPERIDOL
     Route: 048
  166. HALOPERIDOL [Suspect]
     Active Substance: HALOPERIDOL
     Route: 048
  167. HALOPERIDOL [Suspect]
     Active Substance: HALOPERIDOL
     Route: 048
  168. HALOPERIDOL [Suspect]
     Active Substance: HALOPERIDOL
  169. HALOPERIDOL [Suspect]
     Active Substance: HALOPERIDOL
     Route: 048
  170. HALOPERIDOL [Suspect]
     Active Substance: HALOPERIDOL
  171. HALOPERIDOL [Suspect]
     Active Substance: HALOPERIDOL
     Route: 048
  172. HALOPERIDOL [Suspect]
     Active Substance: HALOPERIDOL
     Route: 048
  173. HALOPERIDOL [Suspect]
     Active Substance: HALOPERIDOL
     Route: 065
  174. HALOPERIDOL [Suspect]
     Active Substance: HALOPERIDOL
     Route: 065
  175. HALOPERIDOL [Suspect]
     Active Substance: HALOPERIDOL
     Route: 048
  176. HALOPERIDOL [Suspect]
     Active Substance: HALOPERIDOL
     Indication: Product used for unknown indication
     Route: 048
  177. HALOPERIDOL [Suspect]
     Active Substance: HALOPERIDOL
     Route: 048
  178. HALOPERIDOL [Suspect]
     Active Substance: HALOPERIDOL
     Route: 048
  179. HALOPERIDOL [Suspect]
     Active Substance: HALOPERIDOL
     Route: 048
  180. HALOPERIDOL [Suspect]
     Active Substance: HALOPERIDOL
     Route: 048
  181. HALOPERIDOL [Suspect]
     Active Substance: HALOPERIDOL
     Route: 048
  182. HALOPERIDOL [Suspect]
     Active Substance: HALOPERIDOL
     Route: 048
  183. HALOPERIDOL [Suspect]
     Active Substance: HALOPERIDOL
     Route: 048
  184. HALOPERIDOL [Suspect]
     Active Substance: HALOPERIDOL
     Route: 048
  185. HALOPERIDOL [Suspect]
     Active Substance: HALOPERIDOL
     Route: 048
  186. HALOPERIDOL [Suspect]
     Active Substance: HALOPERIDOL
     Route: 048
  187. HALOPERIDOL [Suspect]
     Active Substance: HALOPERIDOL
     Route: 048
  188. HALOPERIDOL [Suspect]
     Active Substance: HALOPERIDOL
     Route: 048
  189. HALOPERIDOL [Suspect]
     Active Substance: HALOPERIDOL
     Route: 048
  190. HALOPERIDOL [Suspect]
     Active Substance: HALOPERIDOL
     Route: 048
  191. HALOPERIDOL [Suspect]
     Active Substance: HALOPERIDOL
     Route: 048
  192. HALOPERIDOL [Suspect]
     Active Substance: HALOPERIDOL
     Route: 048
  193. HALOPERIDOL [Suspect]
     Active Substance: HALOPERIDOL
     Route: 048
  194. HALOPERIDOL [Suspect]
     Active Substance: HALOPERIDOL
     Indication: Schizophrenia
     Route: 048
  195. HALOPERIDOL [Suspect]
     Active Substance: HALOPERIDOL
     Indication: Schizophrenia
  196. HALOPERIDOL [Suspect]
     Active Substance: HALOPERIDOL
  197. HALOPERIDOL [Suspect]
     Active Substance: HALOPERIDOL
  198. HALOPERIDOL [Suspect]
     Active Substance: HALOPERIDOL
  199. HALOPERIDOL [Suspect]
     Active Substance: HALOPERIDOL
  200. HALOPERIDOL [Suspect]
     Active Substance: HALOPERIDOL
  201. HALOPERIDOL [Suspect]
     Active Substance: HALOPERIDOL
  202. HALOPERIDOL [Suspect]
     Active Substance: HALOPERIDOL
  203. HALOPERIDOL [Suspect]
     Active Substance: HALOPERIDOL
  204. HALOPERIDOL [Suspect]
     Active Substance: HALOPERIDOL
  205. HALOPERIDOL [Suspect]
     Active Substance: HALOPERIDOL
  206. HALOPERIDOL [Suspect]
     Active Substance: HALOPERIDOL
  207. HALOPERIDOL [Suspect]
     Active Substance: HALOPERIDOL
  208. HALOPERIDOL [Suspect]
     Active Substance: HALOPERIDOL
  209. HALOPERIDOL [Suspect]
     Active Substance: HALOPERIDOL
  210. HALOPERIDOL [Suspect]
     Active Substance: HALOPERIDOL
  211. HALOPERIDOL [Suspect]
     Active Substance: HALOPERIDOL
  212. HALOPERIDOL [Suspect]
     Active Substance: HALOPERIDOL
  213. HALOPERIDOL [Suspect]
     Active Substance: HALOPERIDOL
  214. HALOPERIDOL [Suspect]
     Active Substance: HALOPERIDOL
  215. HALOPERIDOL [Suspect]
     Active Substance: HALOPERIDOL
  216. HALOPERIDOL [Suspect]
     Active Substance: HALOPERIDOL
  217. HALOPERIDOL [Suspect]
     Active Substance: HALOPERIDOL
  218. HALOPERIDOL [Suspect]
     Active Substance: HALOPERIDOL
  219. HALOPERIDOL [Suspect]
     Active Substance: HALOPERIDOL
  220. HALOPERIDOL [Suspect]
     Active Substance: HALOPERIDOL
  221. HALOPERIDOL [Suspect]
     Active Substance: HALOPERIDOL
  222. HALOPERIDOL [Suspect]
     Active Substance: HALOPERIDOL
  223. HALOPERIDOL [Suspect]
     Active Substance: HALOPERIDOL
  224. LORAZEPAM [Suspect]
     Active Substance: LORAZEPAM
     Indication: Schizophrenia
     Route: 048
  225. LORAZEPAM [Suspect]
     Active Substance: LORAZEPAM
     Indication: Schizophrenia
     Route: 048
  226. LORAZEPAM [Suspect]
     Active Substance: LORAZEPAM
     Route: 048
  227. LORAZEPAM [Suspect]
     Active Substance: LORAZEPAM
     Route: 048
  228. LORAZEPAM [Suspect]
     Active Substance: LORAZEPAM
     Route: 048
  229. LORAZEPAM [Suspect]
     Active Substance: LORAZEPAM
     Route: 048
  230. LORAZEPAM [Suspect]
     Active Substance: LORAZEPAM
     Route: 048
  231. LORAZEPAM [Suspect]
     Active Substance: LORAZEPAM
     Route: 048
  232. LORAZEPAM [Suspect]
     Active Substance: LORAZEPAM
     Route: 048
  233. LORAZEPAM [Suspect]
     Active Substance: LORAZEPAM
     Route: 048
  234. LORAZEPAM [Suspect]
     Active Substance: LORAZEPAM
  235. LORAZEPAM [Suspect]
     Active Substance: LORAZEPAM
     Route: 048
  236. LORAZEPAM [Suspect]
     Active Substance: LORAZEPAM
     Route: 048
  237. LORAZEPAM [Suspect]
     Active Substance: LORAZEPAM
     Route: 050
  238. LORAZEPAM [Suspect]
     Active Substance: LORAZEPAM
     Route: 048
  239. LORAZEPAM [Suspect]
     Active Substance: LORAZEPAM
  240. LORAZEPAM [Suspect]
     Active Substance: LORAZEPAM
     Route: 048
  241. LORAZEPAM [Suspect]
     Active Substance: LORAZEPAM
     Route: 048
  242. LORAZEPAM [Suspect]
     Active Substance: LORAZEPAM
     Route: 048
  243. LORAZEPAM [Suspect]
     Active Substance: LORAZEPAM
     Route: 048
  244. LORAZEPAM [Suspect]
     Active Substance: LORAZEPAM
     Route: 048
  245. LORAZEPAM [Suspect]
     Active Substance: LORAZEPAM
     Route: 048
  246. LORAZEPAM [Suspect]
     Active Substance: LORAZEPAM
     Route: 048
  247. LORAZEPAM [Suspect]
     Active Substance: LORAZEPAM
     Route: 048
  248. LORAZEPAM [Suspect]
     Active Substance: LORAZEPAM
     Route: 048
  249. LORAZEPAM [Suspect]
     Active Substance: LORAZEPAM
  250. LORAZEPAM [Suspect]
     Active Substance: LORAZEPAM
     Indication: Schizophrenia
     Route: 048
  251. LORAZEPAM [Suspect]
     Active Substance: LORAZEPAM
     Indication: Schizophrenia
  252. LORAZEPAM [Suspect]
     Active Substance: LORAZEPAM
     Indication: Schizophrenia
     Route: 048
  253. LORAZEPAM [Suspect]
     Active Substance: LORAZEPAM
  254. LORAZEPAM [Suspect]
     Active Substance: LORAZEPAM
  255. LORAZEPAM [Suspect]
     Active Substance: LORAZEPAM
  256. LORAZEPAM [Suspect]
     Active Substance: LORAZEPAM
  257. LORAZEPAM [Suspect]
     Active Substance: LORAZEPAM
  258. LORAZEPAM [Suspect]
     Active Substance: LORAZEPAM
  259. LORAZEPAM [Suspect]
     Active Substance: LORAZEPAM
  260. LORAZEPAM [Suspect]
     Active Substance: LORAZEPAM
     Route: 048
  261. LORAZEPAM [Suspect]
     Active Substance: LORAZEPAM
     Route: 048
  262. LORAZEPAM [Suspect]
     Active Substance: LORAZEPAM
     Route: 048
  263. LORAZEPAM [Suspect]
     Active Substance: LORAZEPAM
     Route: 048
  264. LORAZEPAM [Suspect]
     Active Substance: LORAZEPAM
     Route: 048
  265. LORAZEPAM [Suspect]
     Active Substance: LORAZEPAM
     Route: 050
  266. LORAZEPAM [Suspect]
     Active Substance: LORAZEPAM
     Route: 048
  267. LORAZEPAM [Suspect]
     Active Substance: LORAZEPAM
     Route: 048
  268. LORAZEPAM [Suspect]
     Active Substance: LORAZEPAM
     Route: 048
  269. LORAZEPAM [Suspect]
     Active Substance: LORAZEPAM
     Route: 048
  270. LORAZEPAM [Suspect]
     Active Substance: LORAZEPAM
     Route: 048
  271. LORAZEPAM [Suspect]
     Active Substance: LORAZEPAM
     Route: 048
  272. LORAZEPAM [Suspect]
     Active Substance: LORAZEPAM
     Route: 048
  273. LORAZEPAM [Suspect]
     Active Substance: LORAZEPAM
     Route: 048
  274. ARIPIPRAZOLE [Suspect]
     Active Substance: ARIPIPRAZOLE
     Indication: Schizophrenia
     Route: 048
  275. ARIPIPRAZOLE [Suspect]
     Active Substance: ARIPIPRAZOLE
  276. ARIPIPRAZOLE [Suspect]
     Active Substance: ARIPIPRAZOLE
     Route: 048
  277. ARIPIPRAZOLE [Suspect]
     Active Substance: ARIPIPRAZOLE
     Route: 048
  278. ARIPIPRAZOLE [Suspect]
     Active Substance: ARIPIPRAZOLE
     Route: 048
  279. ARIPIPRAZOLE [Suspect]
     Active Substance: ARIPIPRAZOLE
     Route: 065
  280. ARIPIPRAZOLE [Suspect]
     Active Substance: ARIPIPRAZOLE
     Route: 048
  281. ARIPIPRAZOLE [Suspect]
     Active Substance: ARIPIPRAZOLE
     Route: 048
  282. ARIPIPRAZOLE [Suspect]
     Active Substance: ARIPIPRAZOLE
     Route: 048
  283. ARIPIPRAZOLE [Suspect]
     Active Substance: ARIPIPRAZOLE
     Route: 048
  284. ARIPIPRAZOLE [Suspect]
     Active Substance: ARIPIPRAZOLE
     Route: 048
  285. ARIPIPRAZOLE [Suspect]
     Active Substance: ARIPIPRAZOLE
     Route: 048
  286. ARIPIPRAZOLE [Suspect]
     Active Substance: ARIPIPRAZOLE
     Route: 048
  287. ARIPIPRAZOLE [Suspect]
     Active Substance: ARIPIPRAZOLE
     Route: 048
  288. ARIPIPRAZOLE [Suspect]
     Active Substance: ARIPIPRAZOLE
     Route: 048
  289. ARIPIPRAZOLE [Suspect]
     Active Substance: ARIPIPRAZOLE
     Route: 048
  290. ARIPIPRAZOLE [Suspect]
     Active Substance: ARIPIPRAZOLE
     Route: 048
  291. ARIPIPRAZOLE [Suspect]
     Active Substance: ARIPIPRAZOLE
     Route: 048
  292. ARIPIPRAZOLE [Suspect]
     Active Substance: ARIPIPRAZOLE
     Indication: Schizophrenia
     Route: 065
  293. ARIPIPRAZOLE [Suspect]
     Active Substance: ARIPIPRAZOLE
     Indication: Schizophrenia
     Route: 065
  294. ARIPIPRAZOLE [Suspect]
     Active Substance: ARIPIPRAZOLE
     Route: 065
  295. ARIPIPRAZOLE [Suspect]
     Active Substance: ARIPIPRAZOLE
     Route: 065
  296. ARIPIPRAZOLE [Suspect]
     Active Substance: ARIPIPRAZOLE
     Route: 048
  297. ARIPIPRAZOLE [Suspect]
     Active Substance: ARIPIPRAZOLE
     Route: 048
  298. ARIPIPRAZOLE [Suspect]
     Active Substance: ARIPIPRAZOLE
     Route: 048
  299. ARIPIPRAZOLE [Suspect]
     Active Substance: ARIPIPRAZOLE
     Route: 065
  300. ARIPIPRAZOLE [Suspect]
     Active Substance: ARIPIPRAZOLE
     Route: 048
  301. ARIPIPRAZOLE [Suspect]
     Active Substance: ARIPIPRAZOLE
     Route: 048
  302. ARIPIPRAZOLE [Suspect]
     Active Substance: ARIPIPRAZOLE
     Route: 048
  303. ARIPIPRAZOLE [Suspect]
     Active Substance: ARIPIPRAZOLE
  304. ARIPIPRAZOLE [Suspect]
     Active Substance: ARIPIPRAZOLE
  305. ARIPIPRAZOLE [Suspect]
     Active Substance: ARIPIPRAZOLE
  306. ARIPIPRAZOLE [Suspect]
     Active Substance: ARIPIPRAZOLE
     Route: 048
  307. ARIPIPRAZOLE [Suspect]
     Active Substance: ARIPIPRAZOLE
     Route: 048
  308. ARIPIPRAZOLE [Suspect]
     Active Substance: ARIPIPRAZOLE
     Route: 048
  309. ARIPIPRAZOLE [Suspect]
     Active Substance: ARIPIPRAZOLE
  310. ARIPIPRAZOLE [Suspect]
     Active Substance: ARIPIPRAZOLE
     Route: 048
  311. ARIPIPRAZOLE [Suspect]
     Active Substance: ARIPIPRAZOLE
     Indication: Schizophrenia
  312. ARIPIPRAZOLE [Suspect]
     Active Substance: ARIPIPRAZOLE
  313. ARIPIPRAZOLE [Suspect]
     Active Substance: ARIPIPRAZOLE
  314. ARIPIPRAZOLE [Suspect]
     Active Substance: ARIPIPRAZOLE
  315. ARIPIPRAZOLE [Suspect]
     Active Substance: ARIPIPRAZOLE
  316. ARIPIPRAZOLE [Suspect]
     Active Substance: ARIPIPRAZOLE
     Indication: Schizophrenia
  317. ARIPIPRAZOLE [Suspect]
     Active Substance: ARIPIPRAZOLE
     Indication: Schizophrenia
  318. ARIPIPRAZOLE [Suspect]
     Active Substance: ARIPIPRAZOLE
  319. ARIPIPRAZOLE [Suspect]
     Active Substance: ARIPIPRAZOLE
  320. ARIPIPRAZOLE [Suspect]
     Active Substance: ARIPIPRAZOLE
  321. ARIPIPRAZOLE [Suspect]
     Active Substance: ARIPIPRAZOLE
  322. ARIPIPRAZOLE [Suspect]
     Active Substance: ARIPIPRAZOLE
  323. ARIPIPRAZOLE [Suspect]
     Active Substance: ARIPIPRAZOLE
  324. ARIPIPRAZOLE [Suspect]
     Active Substance: ARIPIPRAZOLE
  325. ARIPIPRAZOLE [Suspect]
     Active Substance: ARIPIPRAZOLE
  326. CHLORPROMAZINE [Suspect]
     Active Substance: CHLORPROMAZINE
     Indication: Schizophrenia
     Route: 048
  327. CHLORPROMAZINE [Suspect]
     Active Substance: CHLORPROMAZINE
     Indication: Schizophrenia
  328. CHLORPROMAZINE [Suspect]
     Active Substance: CHLORPROMAZINE
     Indication: Breast cancer metastatic
     Route: 048
  329. CHLORPROMAZINE [Suspect]
     Active Substance: CHLORPROMAZINE
     Route: 048
  330. CHLORPROMAZINE [Suspect]
     Active Substance: CHLORPROMAZINE
     Route: 048
  331. CHLORPROMAZINE [Suspect]
     Active Substance: CHLORPROMAZINE
     Route: 048
  332. CHLORPROMAZINE [Suspect]
     Active Substance: CHLORPROMAZINE
     Route: 048
  333. CHLORPROMAZINE [Suspect]
     Active Substance: CHLORPROMAZINE
     Route: 048
  334. CHLORPROMAZINE [Suspect]
     Active Substance: CHLORPROMAZINE
  335. CHLORPROMAZINE [Suspect]
     Active Substance: CHLORPROMAZINE
  336. CHLORPROMAZINE [Suspect]
     Active Substance: CHLORPROMAZINE
  337. CHLORPROMAZINE [Suspect]
     Active Substance: CHLORPROMAZINE
     Route: 048
  338. CHLORPROMAZINE [Suspect]
     Active Substance: CHLORPROMAZINE
     Route: 048
  339. CHLORPROMAZINE [Suspect]
     Active Substance: CHLORPROMAZINE
     Route: 048
  340. CHLORPROMAZINE [Suspect]
     Active Substance: CHLORPROMAZINE
     Route: 048
  341. CHLORPROMAZINE [Suspect]
     Active Substance: CHLORPROMAZINE
     Route: 048
  342. CHLORPROMAZINE [Suspect]
     Active Substance: CHLORPROMAZINE
     Route: 048
  343. CHLORPROMAZINE [Suspect]
     Active Substance: CHLORPROMAZINE
     Route: 048
  344. CHLORPROMAZINE [Suspect]
     Active Substance: CHLORPROMAZINE
     Route: 048
  345. CHLORPROMAZINE [Suspect]
     Active Substance: CHLORPROMAZINE
     Route: 048
  346. CHLORPROMAZINE [Suspect]
     Active Substance: CHLORPROMAZINE
     Route: 048
  347. CHLORPROMAZINE [Suspect]
     Active Substance: CHLORPROMAZINE
     Route: 065
  348. CHLORPROMAZINE [Suspect]
     Active Substance: CHLORPROMAZINE
     Route: 065
  349. CHLORPROMAZINE [Suspect]
     Active Substance: CHLORPROMAZINE
     Route: 065
  350. CHLORPROMAZINE [Suspect]
     Active Substance: CHLORPROMAZINE
     Route: 065
  351. CHLORPROMAZINE [Suspect]
     Active Substance: CHLORPROMAZINE
     Route: 065
  352. CHLORPROMAZINE [Suspect]
     Active Substance: CHLORPROMAZINE
     Route: 065
  353. CHLORPROMAZINE [Suspect]
     Active Substance: CHLORPROMAZINE
     Route: 065
  354. CHLORPROMAZINE [Suspect]
     Active Substance: CHLORPROMAZINE
     Route: 065
  355. CHLORPROMAZINE [Suspect]
     Active Substance: CHLORPROMAZINE
     Route: 065
  356. CHLORPROMAZINE [Suspect]
     Active Substance: CHLORPROMAZINE
     Route: 065
  357. CHLORPROMAZINE [Suspect]
     Active Substance: CHLORPROMAZINE
     Route: 065
  358. CHLORPROMAZINE [Suspect]
     Active Substance: CHLORPROMAZINE
  359. CHLORPROMAZINE [Suspect]
     Active Substance: CHLORPROMAZINE
  360. CHLORPROMAZINE [Suspect]
     Active Substance: CHLORPROMAZINE
  361. CHLORPROMAZINE [Suspect]
     Active Substance: CHLORPROMAZINE
  362. CHLORPROMAZINE [Suspect]
     Active Substance: CHLORPROMAZINE
  363. CHLORPROMAZINE [Suspect]
     Active Substance: CHLORPROMAZINE
  364. CHLORPROMAZINE [Suspect]
     Active Substance: CHLORPROMAZINE
  365. CHLORPROMAZINE [Suspect]
     Active Substance: CHLORPROMAZINE
     Indication: Schizophrenia
     Route: 048
  366. CHLORPROMAZINE [Suspect]
     Active Substance: CHLORPROMAZINE
     Route: 048
  367. CHLORPROMAZINE [Suspect]
     Active Substance: CHLORPROMAZINE
     Route: 048
  368. CHLORPROMAZINE [Suspect]
     Active Substance: CHLORPROMAZINE
     Route: 048
  369. CHLORPROMAZINE [Suspect]
     Active Substance: CHLORPROMAZINE
     Route: 048
  370. CHLORPROMAZINE [Suspect]
     Active Substance: CHLORPROMAZINE
     Route: 048
  371. CHLORPROMAZINE [Suspect]
     Active Substance: CHLORPROMAZINE
     Route: 048
  372. CHLORPROMAZINE [Suspect]
     Active Substance: CHLORPROMAZINE
     Route: 048
  373. CHLORPROMAZINE [Suspect]
     Active Substance: CHLORPROMAZINE
     Route: 048
  374. CHLORPROMAZINE [Suspect]
     Active Substance: CHLORPROMAZINE
     Route: 048
  375. CHLORPROMAZINE [Suspect]
     Active Substance: CHLORPROMAZINE
     Route: 048
  376. CHLORPROMAZINE [Suspect]
     Active Substance: CHLORPROMAZINE
     Route: 048
  377. CHLORPROMAZINE [Suspect]
     Active Substance: CHLORPROMAZINE
     Route: 048
  378. CHLORPROMAZINE [Suspect]
     Active Substance: CHLORPROMAZINE
     Route: 065
  379. CHLORPROMAZINE [Suspect]
     Active Substance: CHLORPROMAZINE
     Route: 065
  380. CHLORPROMAZINE [Suspect]
     Active Substance: CHLORPROMAZINE
     Route: 065
  381. CHLORPROMAZINE [Suspect]
     Active Substance: CHLORPROMAZINE
     Route: 065
  382. CHLORPROMAZINE [Suspect]
     Active Substance: CHLORPROMAZINE
     Route: 065
  383. CHLORPROMAZINE [Suspect]
     Active Substance: CHLORPROMAZINE
     Route: 065
  384. CHLORPROMAZINE [Suspect]
     Active Substance: CHLORPROMAZINE
     Route: 065
  385. CHLORPROMAZINE [Suspect]
     Active Substance: CHLORPROMAZINE
     Route: 065
  386. CHLORPROMAZINE [Suspect]
     Active Substance: CHLORPROMAZINE
     Route: 065
  387. CHLORPROMAZINE [Suspect]
     Active Substance: CHLORPROMAZINE
     Route: 065
  388. CHLORPROMAZINE [Suspect]
     Active Substance: CHLORPROMAZINE
     Route: 065
  389. CHLORPROMAZINE [Suspect]
     Active Substance: CHLORPROMAZINE
     Route: 065
  390. CHLORPROMAZINE [Suspect]
     Active Substance: CHLORPROMAZINE
     Route: 065
  391. CHLORPROMAZINE [Suspect]
     Active Substance: CHLORPROMAZINE
     Route: 065
  392. CHLORPROMAZINE [Suspect]
     Active Substance: CHLORPROMAZINE
     Route: 048
  393. ZUCLOPENTHIXOL HYDROCHLORIDE [Suspect]
     Active Substance: ZUCLOPENTHIXOL HYDROCHLORIDE
     Indication: Schizophrenia
     Route: 065
  394. ZUCLOPENTHIXOL HYDROCHLORIDE [Suspect]
     Active Substance: ZUCLOPENTHIXOL HYDROCHLORIDE
     Indication: Off label use
     Dosage: 400 MG, 1/WEEK, (ADDITIONAL INFORMATION ON DRUG (FREE TEXT): CLOZARIL ADDITIONAL INFO: OFF LABEL USE
     Route: 030
  395. ZUCLOPENTHIXOL HYDROCHLORIDE [Suspect]
     Active Substance: ZUCLOPENTHIXOL HYDROCHLORIDE
     Dosage: 400 MILLIGRAM, EVERY WEEK
     Route: 065
  396. ZUCLOPENTHIXOL HYDROCHLORIDE [Suspect]
     Active Substance: ZUCLOPENTHIXOL HYDROCHLORIDE
     Route: 065
  397. ZUCLOPENTHIXOL HYDROCHLORIDE [Suspect]
     Active Substance: ZUCLOPENTHIXOL HYDROCHLORIDE
     Route: 065
  398. ZUCLOPENTHIXOL HYDROCHLORIDE [Suspect]
     Active Substance: ZUCLOPENTHIXOL HYDROCHLORIDE
     Dosage: 400 MG, QW2
     Route: 065
     Dates: start: 20030204, end: 20040217
  399. ZUCLOPENTHIXOL HYDROCHLORIDE [Suspect]
     Active Substance: ZUCLOPENTHIXOL HYDROCHLORIDE
     Dosage: 800 MILLIGRAM, QWK, (ADDITIONAL INFORMATION ON DRUG (FREE TEXT): CLOZARIL ADDITIONAL INFO: OFF LABEL
     Route: 030
     Dates: start: 20030204, end: 20040217
  400. ZUCLOPENTHIXOL HYDROCHLORIDE [Suspect]
     Active Substance: ZUCLOPENTHIXOL HYDROCHLORIDE
     Dosage: 400 MG, CYCLIC (400 MG, BIWEEKLY)
     Route: 065
     Dates: start: 20030204, end: 20040217
  401. ZUCLOPENTHIXOL HYDROCHLORIDE [Suspect]
     Active Substance: ZUCLOPENTHIXOL HYDROCHLORIDE
     Route: 065
     Dates: start: 20030204, end: 20040217
  402. ZUCLOPENTHIXOL HYDROCHLORIDE [Suspect]
     Active Substance: ZUCLOPENTHIXOL HYDROCHLORIDE
     Dosage: 400 MILLIGRAM, QW
     Route: 065
     Dates: start: 20030217, end: 20040601
  403. ZUCLOPENTHIXOL HYDROCHLORIDE [Suspect]
     Active Substance: ZUCLOPENTHIXOL HYDROCHLORIDE
     Dosage: 400 MG, QW, (ADDITIONAL INFORMATION ON DRUG (FREE TEXT): CLOZARIL ADDITIONAL INFO: OFF LABEL USE; CU
     Route: 065
     Dates: start: 20040217, end: 20040601
  404. ZUCLOPENTHIXOL HYDROCHLORIDE [Suspect]
     Active Substance: ZUCLOPENTHIXOL HYDROCHLORIDE
     Route: 065
     Dates: start: 20040217, end: 20040601
  405. ZUCLOPENTHIXOL HYDROCHLORIDE [Suspect]
     Active Substance: ZUCLOPENTHIXOL HYDROCHLORIDE
     Dosage: 400 MG, WEEKLY (1/W)/40 MILLIGRAM (ADDITIONAL INFORMATION ON DRUG (FREE TEXT): CLOZARIL, ADDITIONAL
     Route: 030
     Dates: start: 20040217, end: 20040601
  406. ZUCLOPENTHIXOL HYDROCHLORIDE [Suspect]
     Active Substance: ZUCLOPENTHIXOL HYDROCHLORIDE
     Dosage: 400 MG, QW2
     Route: 065
     Dates: start: 20040601, end: 20041018
  407. ZUCLOPENTHIXOL HYDROCHLORIDE [Suspect]
     Active Substance: ZUCLOPENTHIXOL HYDROCHLORIDE
     Dosage: 400 MILLIGRAM, BIW
     Route: 065
     Dates: start: 20040601, end: 20041018
  408. ZUCLOPENTHIXOL HYDROCHLORIDE [Suspect]
     Active Substance: ZUCLOPENTHIXOL HYDROCHLORIDE
     Route: 065
     Dates: start: 20040601
  409. ZUCLOPENTHIXOL HYDROCHLORIDE [Suspect]
     Active Substance: ZUCLOPENTHIXOL HYDROCHLORIDE
     Dosage: 400 MILLIGRAM, QWK/ (ADDITIONAL INFORMATION ON DRUG (FREE TEXT): CLOZARIL ADDITIONAL INFO: OFF LABEL
     Route: 030
     Dates: start: 20040601, end: 20041018
  410. ZUCLOPENTHIXOL HYDROCHLORIDE [Suspect]
     Active Substance: ZUCLOPENTHIXOL HYDROCHLORIDE
     Dosage: 300 MG, QW
     Route: 030
     Dates: start: 20040601, end: 20041018
  411. ZUCLOPENTHIXOL HYDROCHLORIDE [Suspect]
     Active Substance: ZUCLOPENTHIXOL HYDROCHLORIDE
     Dosage: 400 MG, QW2
     Route: 065
     Dates: start: 20091018
  412. ZUCLOPENTHIXOL HYDROCHLORIDE [Suspect]
     Active Substance: ZUCLOPENTHIXOL HYDROCHLORIDE
     Dosage: 400 MG, QW2
     Route: 065
     Dates: start: 20041018, end: 20041018
  413. ZUCLOPENTHIXOL HYDROCHLORIDE [Suspect]
     Active Substance: ZUCLOPENTHIXOL HYDROCHLORIDE
     Route: 030
     Dates: start: 20041018, end: 20041018
  414. ZUCLOPENTHIXOL HYDROCHLORIDE [Suspect]
     Active Substance: ZUCLOPENTHIXOL HYDROCHLORIDE
     Route: 065
     Dates: start: 20041018, end: 20041018
  415. ZUCLOPENTHIXOL HYDROCHLORIDE [Suspect]
     Active Substance: ZUCLOPENTHIXOL HYDROCHLORIDE
     Dosage: 400 MG BIW
     Route: 030
     Dates: start: 20041018, end: 20041018
  416. ZUCLOPENTHIXOL HYDROCHLORIDE [Suspect]
     Active Substance: ZUCLOPENTHIXOL HYDROCHLORIDE
     Route: 030
     Dates: start: 20041018
  417. ZUCLOPENTHIXOL HYDROCHLORIDE [Suspect]
     Active Substance: ZUCLOPENTHIXOL HYDROCHLORIDE
     Dosage: 400 MILLIGRAM, BIWEEKLY/04-FEB-2003; 17-FEB-2004 00:00
     Route: 065
  418. ZUCLOPENTHIXOL HYDROCHLORIDE [Suspect]
     Active Substance: ZUCLOPENTHIXOL HYDROCHLORIDE
     Dosage: 800 MILLIGRAM, QW (400 MG, 2/W)/04-FEB-2003; 17-FEB-2004 00:00
     Route: 065
  419. ZUCLOPENTHIXOL HYDROCHLORIDE [Suspect]
     Active Substance: ZUCLOPENTHIXOL HYDROCHLORIDE
     Route: 030
     Dates: start: 20030204, end: 20040217
  420. ZUCLOPENTHIXOL HYDROCHLORIDE [Suspect]
     Active Substance: ZUCLOPENTHIXOL HYDROCHLORIDE
     Dosage: 400 MG, QW2, (CYCLIC, 04 FEB 2004); 17-FEB-2004 00:00
     Route: 065
  421. ZUCLOPENTHIXOL HYDROCHLORIDE [Suspect]
     Active Substance: ZUCLOPENTHIXOL HYDROCHLORIDE
     Dosage: 300 MG, WEEKLY/18-OCT-2009; 17-FEB-2004 00:00, (ADDITIONAL INFORMATION ON DRUG (FREE TEXT): CLOZARIL
     Route: 030
     Dates: start: 20091018
  422. ZUCLOPENTHIXOL HYDROCHLORIDE [Suspect]
     Active Substance: ZUCLOPENTHIXOL HYDROCHLORIDE
     Dosage: 800 MG, QW, (04 FEB 2003); 17-FEB-2004 00:00
     Route: 065
  423. ZUCLOPENTHIXOL HYDROCHLORIDE [Suspect]
     Active Substance: ZUCLOPENTHIXOL HYDROCHLORIDE
     Dosage: 400 MILLIGRAM, WEEKLY/17-FEB-2004; 01-JUN-2004 00:00
  424. ZUCLOPENTHIXOL HYDROCHLORIDE [Suspect]
     Active Substance: ZUCLOPENTHIXOL HYDROCHLORIDE
     Dosage: 400 MG, CYCLIC (400 MG, BIWEEKLY)/01-JUN-2004; 18-OCT-2004 00:00/ 400 MILLIGRAM, Q2WK (ADDITIONAL IN
     Route: 030
     Dates: start: 20040601, end: 20041018
  425. ZUCLOPENTHIXOL HYDROCHLORIDE [Suspect]
     Active Substance: ZUCLOPENTHIXOL HYDROCHLORIDE
     Dosage: 400 MILLIGRAM, BIWEEKLY/18-OCT-2009; 18-OCT-2004 00:00
     Route: 065
  426. ZUCLOPENTHIXOL HYDROCHLORIDE [Suspect]
     Active Substance: ZUCLOPENTHIXOL HYDROCHLORIDE
     Dosage: 800 MILLIGRAM, QW (400 MG, 2/W)/01-JUN-2004; 18-OCT-2004 00:00
     Route: 065
  427. ZUCLOPENTHIXOL HYDROCHLORIDE [Suspect]
     Active Substance: ZUCLOPENTHIXOL HYDROCHLORIDE
     Dosage: 400 MG, QW2, (CYCLIC, 01 JUN 2004); 18-OCT-2004 00:00
     Route: 065
  428. ZUCLOPENTHIXOL HYDROCHLORIDE [Suspect]
     Active Substance: ZUCLOPENTHIXOL HYDROCHLORIDE
     Dosage: 400 MILLIGRAM, BIWEEKLY/18-OCT-2009
     Route: 065
  429. ZUCLOPENTHIXOL HYDROCHLORIDE [Suspect]
     Active Substance: ZUCLOPENTHIXOL HYDROCHLORIDE
     Dosage: 300 MG, QW/300 MG, WEEKLY (1/W)
     Route: 030
     Dates: start: 20091009
  430. ZUCLOPENTHIXOL HYDROCHLORIDE [Suspect]
     Active Substance: ZUCLOPENTHIXOL HYDROCHLORIDE
     Route: 030
     Dates: start: 20091009
  431. ZUCLOPENTHIXOL HYDROCHLORIDE [Suspect]
     Active Substance: ZUCLOPENTHIXOL HYDROCHLORIDE
     Route: 030
     Dates: start: 20091009
  432. ZUCLOPENTHIXOL HYDROCHLORIDE [Suspect]
     Active Substance: ZUCLOPENTHIXOL HYDROCHLORIDE
     Dosage: 300 MG, WEEKLY (1/W), 300 MILLIGRAM, QWK, (ADDITIONAL INFORMATION ON DRUG (FREE TEXT): CLOZARIL ADDI
     Route: 030
     Dates: start: 20091018
  433. ZUCLOPENTHIXOL HYDROCHLORIDE [Suspect]
     Active Substance: ZUCLOPENTHIXOL HYDROCHLORIDE
     Dosage: 400 MILLIGRAM, BIW, (ADDITIONAL INFORMATION ON DRUG (FREE TEXT): CLOZARIL ADDITIONAL INFO: OFF LABEL
     Route: 030
     Dates: start: 20091018
  434. ZUCLOPENTHIXOL HYDROCHLORIDE [Suspect]
     Active Substance: ZUCLOPENTHIXOL HYDROCHLORIDE
     Route: 030
     Dates: start: 20091018
  435. ZUCLOPENTHIXOL HYDROCHLORIDE [Suspect]
     Active Substance: ZUCLOPENTHIXOL HYDROCHLORIDE
     Route: 065
     Dates: start: 20091018
  436. ZUCLOPENTHIXOL HYDROCHLORIDE [Suspect]
     Active Substance: ZUCLOPENTHIXOL HYDROCHLORIDE
     Dosage: 300 MG, QW (300 MILLIGRAM I.M WEEKLY), (ADDITIONAL INFORMATION ON DRUG (FREE TEXT): CLOZARIL ADDITIO
     Route: 030
     Dates: start: 20091009
  437. ZUCLOPENTHIXOL HYDROCHLORIDE [Suspect]
     Active Substance: ZUCLOPENTHIXOL HYDROCHLORIDE
     Route: 030
  438. ZUCLOPENTHIXOL HYDROCHLORIDE [Suspect]
     Active Substance: ZUCLOPENTHIXOL HYDROCHLORIDE
     Dosage: 800 MILLIGRAM, QWK, (ADDITIONAL INFORMATION ON DRUG (FREE TEXT): CLOZARIL ADDITIONAL INFO: OFF LABEL
     Route: 030
     Dates: start: 20040601, end: 20041018
  439. ZUCLOPENTHIXOL HYDROCHLORIDE [Suspect]
     Active Substance: ZUCLOPENTHIXOL HYDROCHLORIDE
     Route: 030
     Dates: start: 20040901
  440. ZUCLOPENTHIXOL HYDROCHLORIDE [Suspect]
     Active Substance: ZUCLOPENTHIXOL HYDROCHLORIDE
     Dosage: 400 MILLIGRAM, QWK, (ADDITIONAL INFORMATION ON DRUG (FREE TEXT): CLOZARIL ADDITIONAL INFO: OFF LABEL
     Route: 030
     Dates: start: 20040217, end: 20040601
  441. ZUCLOPENTHIXOL HYDROCHLORIDE [Suspect]
     Active Substance: ZUCLOPENTHIXOL HYDROCHLORIDE
     Route: 030
     Dates: start: 20041018, end: 20041018
  442. ZUCLOPENTHIXOL HYDROCHLORIDE [Suspect]
     Active Substance: ZUCLOPENTHIXOL HYDROCHLORIDE
     Dosage: 300 MILLIGRAM, QWK, (ADDITIONAL INFORMATION ON DRUG (FREE TEXT): CLOZARIL ADDITIONAL INFO: OFF LABEL
     Route: 030
     Dates: start: 20091018
  443. ZUCLOPENTHIXOL HYDROCHLORIDE [Suspect]
     Active Substance: ZUCLOPENTHIXOL HYDROCHLORIDE
     Indication: Product used for unknown indication
     Route: 030
  444. ZUCLOPENTHIXOL HYDROCHLORIDE [Suspect]
     Active Substance: ZUCLOPENTHIXOL HYDROCHLORIDE
     Dosage: 400 MILLIGRAM, BIWEEKLY/18-OCT-2009
     Route: 030
  445. ZUCLOPENTHIXOL HYDROCHLORIDE [Suspect]
     Active Substance: ZUCLOPENTHIXOL HYDROCHLORIDE
     Route: 065
  446. ZUCLOPENTHIXOL HYDROCHLORIDE [Suspect]
     Active Substance: ZUCLOPENTHIXOL HYDROCHLORIDE
     Route: 065
  447. ZUCLOPENTHIXOL HYDROCHLORIDE [Suspect]
     Active Substance: ZUCLOPENTHIXOL HYDROCHLORIDE
     Dosage: 300 MILLIGRAM, QWK (ADDITIONAL INFORMATION ON DRUG (FREE TEXT): CLOZARIL, ADDITIONAL INFO: OFF LABEL
     Route: 030
     Dates: start: 20091009, end: 20091018
  448. ZUCLOPENTHIXOL HYDROCHLORIDE [Suspect]
     Active Substance: ZUCLOPENTHIXOL HYDROCHLORIDE
     Dosage: 400 MILLIGRAM, EVERY WEEK
     Route: 030
  449. ZUCLOPENTHIXOL HYDROCHLORIDE [Suspect]
     Active Substance: ZUCLOPENTHIXOL HYDROCHLORIDE
     Dosage: 400 MG, CYCLIC (400 MG, BIWEEKLY)
     Dates: start: 20030204, end: 20040217
  450. ZUCLOPENTHIXOL HYDROCHLORIDE [Suspect]
     Active Substance: ZUCLOPENTHIXOL HYDROCHLORIDE
     Dosage: 400 MG, CYCLIC (400 MG, BIWEEKLY)
     Dates: start: 20030204, end: 20040217
  451. ZUCLOPENTHIXOL HYDROCHLORIDE [Suspect]
     Active Substance: ZUCLOPENTHIXOL HYDROCHLORIDE
     Route: 030
     Dates: start: 20030204, end: 20040217
  452. ZUCLOPENTHIXOL HYDROCHLORIDE [Suspect]
     Active Substance: ZUCLOPENTHIXOL HYDROCHLORIDE
     Dosage: 400 MILLIGRAM, QWK
     Route: 030
     Dates: start: 20030204, end: 20040217
  453. ZUCLOPENTHIXOL HYDROCHLORIDE [Suspect]
     Active Substance: ZUCLOPENTHIXOL HYDROCHLORIDE
     Dosage: 800 MILLIGRAM, QWK
     Route: 030
     Dates: start: 20030204, end: 20040217
  454. ZUCLOPENTHIXOL HYDROCHLORIDE [Suspect]
     Active Substance: ZUCLOPENTHIXOL HYDROCHLORIDE
     Route: 030
     Dates: start: 20030204, end: 20040217
  455. ZUCLOPENTHIXOL HYDROCHLORIDE [Suspect]
     Active Substance: ZUCLOPENTHIXOL HYDROCHLORIDE
     Route: 030
     Dates: start: 20030204, end: 20040217
  456. ZUCLOPENTHIXOL HYDROCHLORIDE [Suspect]
     Active Substance: ZUCLOPENTHIXOL HYDROCHLORIDE
     Route: 030
     Dates: start: 20030204, end: 20040217
  457. ZUCLOPENTHIXOL HYDROCHLORIDE [Suspect]
     Active Substance: ZUCLOPENTHIXOL HYDROCHLORIDE
     Route: 030
     Dates: start: 20040217
  458. ZUCLOPENTHIXOL HYDROCHLORIDE [Suspect]
     Active Substance: ZUCLOPENTHIXOL HYDROCHLORIDE
     Dosage: 800 MILLIGRAM, QW (400 MG, 2/W)/04-FEB-2003
     Dates: start: 20040217
  459. ZUCLOPENTHIXOL HYDROCHLORIDE [Suspect]
     Active Substance: ZUCLOPENTHIXOL HYDROCHLORIDE
     Dosage: 400 MILLIGRAM, EVERY WEEK
     Route: 030
     Dates: start: 20040217, end: 20040601
  460. ZUCLOPENTHIXOL HYDROCHLORIDE [Suspect]
     Active Substance: ZUCLOPENTHIXOL HYDROCHLORIDE
     Dosage: 400 MILLIGRAM, BIWEEKLY (CYCLE)/04-FEB-2003
     Dates: start: 20040217
  461. ZUCLOPENTHIXOL HYDROCHLORIDE [Suspect]
     Active Substance: ZUCLOPENTHIXOL HYDROCHLORIDE
     Dosage: 400 MG, WEEKLY 1/WEEK
     Route: 030
     Dates: start: 20040217, end: 20040601
  462. ZUCLOPENTHIXOL HYDROCHLORIDE [Suspect]
     Active Substance: ZUCLOPENTHIXOL HYDROCHLORIDE
     Route: 030
     Dates: start: 20040217
  463. ZUCLOPENTHIXOL HYDROCHLORIDE [Suspect]
     Active Substance: ZUCLOPENTHIXOL HYDROCHLORIDE
     Dosage: 400 MG, WEEKLY (1/W)
     Route: 030
     Dates: start: 20040217, end: 20040601
  464. ZUCLOPENTHIXOL HYDROCHLORIDE [Suspect]
     Active Substance: ZUCLOPENTHIXOL HYDROCHLORIDE
     Dosage: 800 MILLIGRAM, QWK (ADDITIONAL INFORMATION ON DRUG (FREE TEXT): CLOZARIL, ADDITIONAL INFO: OFF LABEL
     Route: 030
     Dates: start: 20040217
  465. ZUCLOPENTHIXOL HYDROCHLORIDE [Suspect]
     Active Substance: ZUCLOPENTHIXOL HYDROCHLORIDE
     Dosage: 400 MG, WEEKLY (1/W)
     Route: 030
     Dates: start: 20040217, end: 20040601
  466. ZUCLOPENTHIXOL HYDROCHLORIDE [Suspect]
     Active Substance: ZUCLOPENTHIXOL HYDROCHLORIDE
     Dosage: 400 MILLIGRAM, WEEKLY/17-FEB-2004
     Dates: start: 20040601
  467. ZUCLOPENTHIXOL HYDROCHLORIDE [Suspect]
     Active Substance: ZUCLOPENTHIXOL HYDROCHLORIDE
     Route: 030
     Dates: start: 20040601, end: 20041018
  468. ZUCLOPENTHIXOL HYDROCHLORIDE [Suspect]
     Active Substance: ZUCLOPENTHIXOL HYDROCHLORIDE
     Dosage: 800 MILLIGRAM, QWK
     Route: 030
     Dates: start: 20040601, end: 20041018
  469. ZUCLOPENTHIXOL HYDROCHLORIDE [Suspect]
     Active Substance: ZUCLOPENTHIXOL HYDROCHLORIDE
     Dosage: 400 MG, CYCLIC (400 MG, BIWEEKLY)
     Dates: start: 20040601, end: 20041018
  470. ZUCLOPENTHIXOL HYDROCHLORIDE [Suspect]
     Active Substance: ZUCLOPENTHIXOL HYDROCHLORIDE
     Route: 030
     Dates: start: 20040601, end: 20041018
  471. ZUCLOPENTHIXOL HYDROCHLORIDE [Suspect]
     Active Substance: ZUCLOPENTHIXOL HYDROCHLORIDE
     Route: 030
     Dates: start: 20041018, end: 20041018
  472. ZUCLOPENTHIXOL HYDROCHLORIDE [Suspect]
     Active Substance: ZUCLOPENTHIXOL HYDROCHLORIDE
     Dates: start: 20041018
  473. ZUCLOPENTHIXOL HYDROCHLORIDE [Suspect]
     Active Substance: ZUCLOPENTHIXOL HYDROCHLORIDE
     Dates: start: 20041018
  474. ZUCLOPENTHIXOL HYDROCHLORIDE [Suspect]
     Active Substance: ZUCLOPENTHIXOL HYDROCHLORIDE
     Dosage: 800 MILLIGRAM, QW (400 MG, 2/W)/01-JUN-2004
     Dates: start: 20041018
  475. ZUCLOPENTHIXOL HYDROCHLORIDE [Suspect]
     Active Substance: ZUCLOPENTHIXOL HYDROCHLORIDE
     Dosage: 400 MG, OTHER (BIWEEKLY)
     Dates: start: 20041018, end: 20041018
  476. ZUCLOPENTHIXOL HYDROCHLORIDE [Suspect]
     Active Substance: ZUCLOPENTHIXOL HYDROCHLORIDE
     Dosage: 400 MILLIGRAM, QWK (ADDITIONAL INFORMATION ON DRUG (FREE TEXT): CLOZARIL, ADDITIONAL INFO: OFF LABEL
     Route: 030
     Dates: start: 20041018, end: 20041018
  477. ZUCLOPENTHIXOL HYDROCHLORIDE [Suspect]
     Active Substance: ZUCLOPENTHIXOL HYDROCHLORIDE
     Dosage: 800 MG, 1/WEEK
     Route: 030
     Dates: start: 20041018, end: 20041018
  478. ZUCLOPENTHIXOL HYDROCHLORIDE [Suspect]
     Active Substance: ZUCLOPENTHIXOL HYDROCHLORIDE
     Route: 030
     Dates: start: 20041018, end: 20041018
  479. ZUCLOPENTHIXOL HYDROCHLORIDE [Suspect]
     Active Substance: ZUCLOPENTHIXOL HYDROCHLORIDE
     Route: 030
     Dates: start: 20041018, end: 20041018
  480. ZUCLOPENTHIXOL HYDROCHLORIDE [Suspect]
     Active Substance: ZUCLOPENTHIXOL HYDROCHLORIDE
     Route: 030
     Dates: start: 20091018
  481. ZUCLOPENTHIXOL HYDROCHLORIDE [Suspect]
     Active Substance: ZUCLOPENTHIXOL HYDROCHLORIDE
     Route: 030
     Dates: start: 20091018
  482. ZUCLOPENTHIXOL HYDROCHLORIDE [Suspect]
     Active Substance: ZUCLOPENTHIXOL HYDROCHLORIDE
     Route: 030
     Dates: start: 20091009
  483. ZUCLOPENTHIXOL HYDROCHLORIDE [Suspect]
     Active Substance: ZUCLOPENTHIXOL HYDROCHLORIDE
     Dosage: 300 MG, WEEKLY (1/W)
     Route: 030
     Dates: start: 20091018
  484. ZUCLOPENTHIXOL HYDROCHLORIDE [Suspect]
     Active Substance: ZUCLOPENTHIXOL HYDROCHLORIDE
     Dosage: 300 MG, WEEKLY (1/W)
     Route: 030
     Dates: start: 20091018
  485. ZUCLOPENTHIXOL HYDROCHLORIDE [Suspect]
     Active Substance: ZUCLOPENTHIXOL HYDROCHLORIDE
     Dosage: 300 MG, WEEKLY (1/W), QW (300 MILLIGRAM I.M WEEKLY)/ 300 MILLIGRAM, QWK (ADDITIONAL INFORMATION ON D
     Route: 030
     Dates: start: 20091009
  486. ZUCLOPENTHIXOL HYDROCHLORIDE [Suspect]
     Active Substance: ZUCLOPENTHIXOL HYDROCHLORIDE
     Dates: start: 20091009
  487. ZUCLOPENTHIXOL HYDROCHLORIDE [Suspect]
     Active Substance: ZUCLOPENTHIXOL HYDROCHLORIDE
     Dosage: 300 MG, WEEKLY/18-OCT-2009
     Route: 030
     Dates: start: 20091009
  488. ZUCLOPENTHIXOL HYDROCHLORIDE [Suspect]
     Active Substance: ZUCLOPENTHIXOL HYDROCHLORIDE
     Route: 030
     Dates: start: 20091018
  489. ZUCLOPENTHIXOL HYDROCHLORIDE [Suspect]
     Active Substance: ZUCLOPENTHIXOL HYDROCHLORIDE
     Dosage: 800 MILLIGRAM, QWK
     Route: 030
  490. ZUCLOPENTHIXOL HYDROCHLORIDE [Suspect]
     Active Substance: ZUCLOPENTHIXOL HYDROCHLORIDE
     Route: 030
  491. ZUCLOPENTHIXOL HYDROCHLORIDE [Suspect]
     Active Substance: ZUCLOPENTHIXOL HYDROCHLORIDE
     Dosage: 400 MILLIGRAM/ 400 MG (2/W) (ADDITIONAL INFORMATION ON DRUG (FREE TEXT): CLOZARIL, ADDITIONAL INFO:
     Route: 030
     Dates: start: 20040217, end: 20040601
  492. ZUCLOPENTHIXOL HYDROCHLORIDE [Suspect]
     Active Substance: ZUCLOPENTHIXOL HYDROCHLORIDE
     Route: 030
     Dates: start: 20030204, end: 20041018
  493. ZUCLOPENTHIXOL HYDROCHLORIDE [Suspect]
     Active Substance: ZUCLOPENTHIXOL HYDROCHLORIDE
     Indication: Schizophrenia
     Dosage: 400 MG, 1/WEEK (DOSE TEXT: 400 MG, QW; CUMULATIVE DOSE TO FIRST REACTION: 265885.72 MG )
     Route: 065
     Dates: start: 20030204, end: 20040217
  494. ZUCLOPENTHIXOL HYDROCHLORIDE [Suspect]
     Active Substance: ZUCLOPENTHIXOL HYDROCHLORIDE
     Dosage: 300 MG, 1/WEEK (300 MG, QW CUMULATIVE DOSE TO FIRST REACTION: 94501.79 MG )
     Route: 030
     Dates: start: 20091018
  495. ZUCLOPENTHIXOL HYDROCHLORIDE [Suspect]
     Active Substance: ZUCLOPENTHIXOL HYDROCHLORIDE
     Route: 065
  496. ZUCLOPENTHIXOL HYDROCHLORIDE [Suspect]
     Active Substance: ZUCLOPENTHIXOL HYDROCHLORIDE
     Dosage: 400 MG, 1/WEEK (DOSE TEXT: 400 MG, QW)
     Route: 065
     Dates: end: 20040601
  497. ZUCLOPENTHIXOL HYDROCHLORIDE [Suspect]
     Active Substance: ZUCLOPENTHIXOL HYDROCHLORIDE
     Dosage: 400 MG, 1/WEEK (DOSE TEXT: 400 MG, QW; CUMULATIVE DOSE TO FIRST REACTION: 126002.38 MG)
     Route: 065
     Dates: start: 20091018
  498. ZUCLOPENTHIXOL HYDROCHLORIDE [Suspect]
     Active Substance: ZUCLOPENTHIXOL HYDROCHLORIDE
     Dosage: 400 MG (DOSE TEXT: 400 MG, BIW; CUMULATIVE DOSE TO FIRST REACTION: 63001.19 MG)
     Route: 030
     Dates: start: 20091018
  499. ZUCLOPENTHIXOL HYDROCHLORIDE [Suspect]
     Active Substance: ZUCLOPENTHIXOL HYDROCHLORIDE
     Route: 030
     Dates: start: 20091009
  500. ZUCLOPENTHIXOL HYDROCHLORIDE [Suspect]
     Active Substance: ZUCLOPENTHIXOL HYDROCHLORIDE
     Dosage: 400 MG 2/WEEK (DOSE TEXT: 400 MG, BIW)
     Route: 065
     Dates: end: 20041018
  501. ZUCLOPENTHIXOL HYDROCHLORIDE [Suspect]
     Active Substance: ZUCLOPENTHIXOL HYDROCHLORIDE
     Dosage: 400 MG, 1/WEEK (DOSE TEXT: 400 MG, QW; CUMULATIVE DOSE TO FIRST REACTION: 244285.72 MG )
     Route: 065
     Dates: start: 20040217, end: 20040601
  502. ZUCLOPENTHIXOL HYDROCHLORIDE [Suspect]
     Active Substance: ZUCLOPENTHIXOL HYDROCHLORIDE
     Dosage: 300 MG, 1/WEEK (DOSE TEXT: 300 MG, QW CUMULATIVE DOSE TO FIRST REACTION: 94887.5 MG)
     Route: 030
     Dates: start: 20091009
  503. ZUCLOPENTHIXOL HYDROCHLORIDE [Suspect]
     Active Substance: ZUCLOPENTHIXOL HYDROCHLORIDE
     Route: 065
  504. ZUCLOPENTHIXOL HYDROCHLORIDE [Suspect]
     Active Substance: ZUCLOPENTHIXOL HYDROCHLORIDE
     Dosage: 400 MG, 1/WEEK (DOSE TEXT: 400 MG, QW; CUMULATIVE DOSE TO FIRST REACTION: 230345.23 MG )
     Route: 065
     Dates: start: 20041018, end: 20041018
  505. ZUCLOPENTHIXOL HYDROCHLORIDE [Suspect]
     Active Substance: ZUCLOPENTHIXOL HYDROCHLORIDE
     Route: 065
  506. ZUCLOPENTHIXOL HYDROCHLORIDE [Suspect]
     Active Substance: ZUCLOPENTHIXOL HYDROCHLORIDE
     Dosage: 400 MG, 2/WEEK
     Dates: start: 20040601, end: 20041018
  507. ZUCLOPENTHIXOL HYDROCHLORIDE [Suspect]
     Active Substance: ZUCLOPENTHIXOL HYDROCHLORIDE
     Route: 030
     Dates: start: 20091018
  508. ZUCLOPENTHIXOL HYDROCHLORIDE [Suspect]
     Active Substance: ZUCLOPENTHIXOL HYDROCHLORIDE
     Dosage: 400 MG, WEEKLY (1/W), (CUMULATIVE DOSE TO FIRST REACTION: 310400.0 MG, ADDITIONAL INFORMATION ON DRU
     Route: 065
     Dates: start: 20040217, end: 20040601
  509. ZUCLOPENTHIXOL HYDROCHLORIDE [Suspect]
     Active Substance: ZUCLOPENTHIXOL HYDROCHLORIDE
     Route: 030
     Dates: start: 20030204, end: 20040217
  510. ZUCLOPENTHIXOL HYDROCHLORIDE [Suspect]
     Active Substance: ZUCLOPENTHIXOL HYDROCHLORIDE
     Route: 030
     Dates: start: 20091009
  511. ZUCLOPENTHIXOL HYDROCHLORIDE [Suspect]
     Active Substance: ZUCLOPENTHIXOL HYDROCHLORIDE
     Indication: Schizophrenia
     Dosage: 400 MILLIGRAM, QWK
     Route: 030
  512. ZUCLOPENTHIXOL HYDROCHLORIDE [Suspect]
     Active Substance: ZUCLOPENTHIXOL HYDROCHLORIDE
     Dosage: 400 MILLIGRAM, EVERY WEEK, (ADDITIONAL INFORMATION ON DRUG (FREE TEXT): CLOZARIL ADDITIONAL INFO)
     Route: 030
  513. ZUCLOPENTHIXOL HYDROCHLORIDE [Suspect]
     Active Substance: ZUCLOPENTHIXOL HYDROCHLORIDE
     Dates: start: 20030204, end: 20040217
  514. ZUCLOPENTHIXOL HYDROCHLORIDE [Suspect]
     Active Substance: ZUCLOPENTHIXOL HYDROCHLORIDE
     Dosage: 04-FEB-2003 800 MILLIGRAM, QWK, 664000.0 MG
     Route: 030
     Dates: start: 20030204, end: 20040217
  515. ZUCLOPENTHIXOL HYDROCHLORIDE [Suspect]
     Active Substance: ZUCLOPENTHIXOL HYDROCHLORIDE
     Route: 030
     Dates: start: 20030204, end: 20040217
  516. ZUCLOPENTHIXOL HYDROCHLORIDE [Suspect]
     Active Substance: ZUCLOPENTHIXOL HYDROCHLORIDE
     Route: 030
     Dates: start: 20040217, end: 20040601
  517. ZUCLOPENTHIXOL HYDROCHLORIDE [Suspect]
     Active Substance: ZUCLOPENTHIXOL HYDROCHLORIDE
     Route: 030
     Dates: start: 20040601, end: 20041018
  518. ZUCLOPENTHIXOL HYDROCHLORIDE [Suspect]
     Active Substance: ZUCLOPENTHIXOL HYDROCHLORIDE
     Route: 030
     Dates: start: 20040901
  519. ZUCLOPENTHIXOL HYDROCHLORIDE [Suspect]
     Active Substance: ZUCLOPENTHIXOL HYDROCHLORIDE
     Route: 030
     Dates: start: 20041018
  520. ZUCLOPENTHIXOL HYDROCHLORIDE [Suspect]
     Active Substance: ZUCLOPENTHIXOL HYDROCHLORIDE
     Dosage: 18-OCT-2004 800 MILLIGRAM, QWK
     Route: 030
     Dates: start: 20041018, end: 20041018
  521. ZUCLOPENTHIXOL HYDROCHLORIDE [Suspect]
     Active Substance: ZUCLOPENTHIXOL HYDROCHLORIDE
     Route: 030
     Dates: start: 20041018, end: 20041018
  522. ZUCLOPENTHIXOL HYDROCHLORIDE [Suspect]
     Active Substance: ZUCLOPENTHIXOL HYDROCHLORIDE
     Route: 030
     Dates: start: 20041018
  523. ZUCLOPENTHIXOL HYDROCHLORIDE [Suspect]
     Active Substance: ZUCLOPENTHIXOL HYDROCHLORIDE
     Route: 030
     Dates: start: 20041018, end: 20041018
  524. ZUCLOPENTHIXOL HYDROCHLORIDE [Suspect]
     Active Substance: ZUCLOPENTHIXOL HYDROCHLORIDE
     Route: 030
     Dates: start: 20091009
  525. ZUCLOPENTHIXOL HYDROCHLORIDE [Suspect]
     Active Substance: ZUCLOPENTHIXOL HYDROCHLORIDE
     Route: 030
     Dates: start: 20091009
  526. ZUCLOPENTHIXOL HYDROCHLORIDE [Suspect]
     Active Substance: ZUCLOPENTHIXOL HYDROCHLORIDE
     Dosage: 18-OCT-2009 400 MG, Q2WK (CUMULATIVE DOSE TO FIRST REACTION: 63001.19 MG)
     Route: 030
     Dates: start: 20091018
  527. ZUCLOPENTHIXOL HYDROCHLORIDE [Suspect]
     Active Substance: ZUCLOPENTHIXOL HYDROCHLORIDE
     Route: 030
     Dates: start: 20040217, end: 20040601
  528. ZUCLOPENTHIXOL HYDROCHLORIDE [Suspect]
     Active Substance: ZUCLOPENTHIXOL HYDROCHLORIDE
     Route: 030
  529. ZUCLOPENTHIXOL HYDROCHLORIDE [Suspect]
     Active Substance: ZUCLOPENTHIXOL HYDROCHLORIDE
     Dosage: 800 MILLIGRAM, QWK 17-FEB-2004; 17-FEB-2004 00:00, (ADDITIONAL INFORMATION ON DRUG (FREE TEXT): CLOZ
     Route: 030
     Dates: start: 20040217
  530. ZUCLOPENTHIXOL HYDROCHLORIDE [Suspect]
     Active Substance: ZUCLOPENTHIXOL HYDROCHLORIDE
     Dosage: 300 MILLIGRAM, QWK, 144087.5 MG 18-OCT-2009; 18-OCT-2009 00:00
     Route: 030
  531. ZUCLOPENTHIXOL HYDROCHLORIDE [Suspect]
     Active Substance: ZUCLOPENTHIXOL HYDROCHLORIDE
     Route: 030
     Dates: start: 20091009
  532. ZUCLOPENTHIXOL HYDROCHLORIDE [Suspect]
     Active Substance: ZUCLOPENTHIXOL HYDROCHLORIDE
     Dosage: 400 MG, QWK (CUMULATIVE DOSE TO FIRST REACTION: 238288.1 MG)
     Route: 030
     Dates: start: 20040601, end: 20041018
  533. ZUCLOPENTHIXOL HYDROCHLORIDE [Suspect]
     Active Substance: ZUCLOPENTHIXOL HYDROCHLORIDE
     Dosage: 800 MG, QWK, (ADDITIONAL INFORMATION ON DRUG (FREE TEXT): CLOZARIL ADDITIONAL INFO: OFF LABEL USE; C
     Route: 030
     Dates: start: 20030204, end: 20040217
  534. ZUCLOPENTHIXOL HYDROCHLORIDE [Suspect]
     Active Substance: ZUCLOPENTHIXOL HYDROCHLORIDE
     Route: 030
     Dates: start: 20041018, end: 20041018
  535. ZUCLOPENTHIXOL HYDROCHLORIDE [Suspect]
     Active Substance: ZUCLOPENTHIXOL HYDROCHLORIDE
     Dosage: 400 MILLIGRAM, 1/WEEK, (ADDITIONAL INFORMATION ON DRUG (FREE TEXT): CLOZARIL ADDITIONAL INFO: OFF LA
     Route: 030
     Dates: start: 20030204, end: 20040217
  536. ZUCLOPENTHIXOL HYDROCHLORIDE [Suspect]
     Active Substance: ZUCLOPENTHIXOL HYDROCHLORIDE
     Dosage: 800 MILLIGRAM, 1/WEEK, (ADDITIONAL INFORMATION ON DRUG (FREE TEXT): CLOZARIL ADDITIONAL INFO: OFF LA
     Route: 030
     Dates: start: 20040601, end: 20041018
  537. ZUCLOPENTHIXOL HYDROCHLORIDE [Suspect]
     Active Substance: ZUCLOPENTHIXOL HYDROCHLORIDE
     Route: 030
  538. ZUCLOPENTHIXOL HYDROCHLORIDE [Suspect]
     Active Substance: ZUCLOPENTHIXOL HYDROCHLORIDE
     Route: 030
     Dates: start: 20040601
  539. ZUCLOPENTHIXOL HYDROCHLORIDE [Suspect]
     Active Substance: ZUCLOPENTHIXOL HYDROCHLORIDE
     Route: 030
  540. CLOZARIL [Suspect]
     Active Substance: CLOZAPINE
     Indication: Schizophrenia
     Route: 048
     Dates: start: 20191207
  541. CLOZARIL [Suspect]
     Active Substance: CLOZAPINE
     Route: 048
     Dates: start: 20191209, end: 20191223
  542. CLOZARIL [Suspect]
     Active Substance: CLOZAPINE
     Route: 065
  543. CLOZARIL [Suspect]
     Active Substance: CLOZAPINE
     Route: 048
     Dates: start: 20200521
  544. CLOZARIL [Suspect]
     Active Substance: CLOZAPINE
     Route: 048
  545. CLOZARIL [Suspect]
     Active Substance: CLOZAPINE
     Route: 065
     Dates: start: 20191223, end: 20191223
  546. CLOZARIL [Suspect]
     Active Substance: CLOZAPINE
     Route: 048
     Dates: start: 20201207
  547. CLOZARIL [Suspect]
     Active Substance: CLOZAPINE
     Route: 048
     Dates: start: 20191209, end: 20191223
  548. CLOZARIL [Suspect]
     Active Substance: CLOZAPINE
     Route: 048
     Dates: start: 20200521
  549. CLOZARIL [Suspect]
     Active Substance: CLOZAPINE
     Route: 048
     Dates: start: 20100823
  550. CLOZARIL [Suspect]
     Active Substance: CLOZAPINE
     Route: 065
  551. CLOZARIL [Suspect]
     Active Substance: CLOZAPINE
     Route: 065
  552. CLOZARIL [Suspect]
     Active Substance: CLOZAPINE
     Route: 048
     Dates: start: 2011
  553. CLOZARIL [Suspect]
     Active Substance: CLOZAPINE
     Route: 048
     Dates: start: 20191209, end: 20191223
  554. CLOZARIL [Suspect]
     Active Substance: CLOZAPINE
     Route: 048
     Dates: start: 20191223, end: 20191223
  555. CLOZARIL [Suspect]
     Active Substance: CLOZAPINE
     Route: 048
     Dates: start: 20200521
  556. CLOZARIL [Suspect]
     Active Substance: CLOZAPINE
     Route: 048
     Dates: start: 20191223
  557. CLOZARIL [Suspect]
     Active Substance: CLOZAPINE
     Route: 065
     Dates: start: 2011
  558. CLOZARIL [Suspect]
     Active Substance: CLOZAPINE
     Route: 065
  559. CLOZARIL [Suspect]
     Active Substance: CLOZAPINE
     Route: 065
     Dates: start: 2011
  560. CLOZARIL [Suspect]
     Active Substance: CLOZAPINE
     Route: 048
     Dates: start: 20191209, end: 20191223
  561. CLOZARIL [Suspect]
     Active Substance: CLOZAPINE
     Route: 065
     Dates: start: 20200521
  562. CLOZARIL [Suspect]
     Active Substance: CLOZAPINE
     Route: 065
     Dates: start: 20200521
  563. CLOZARIL [Suspect]
     Active Substance: CLOZAPINE
     Route: 048
     Dates: start: 20100823, end: 20100823
  564. CLOZARIL [Suspect]
     Active Substance: CLOZAPINE
     Route: 048
  565. CLOZARIL [Suspect]
     Active Substance: CLOZAPINE
     Route: 048
     Dates: start: 20200521, end: 20201223
  566. CLOZARIL [Suspect]
     Active Substance: CLOZAPINE
     Route: 048
  567. CLOZARIL [Suspect]
     Active Substance: CLOZAPINE
     Dates: start: 20200521
  568. CLOZARIL [Suspect]
     Active Substance: CLOZAPINE
     Route: 048
     Dates: start: 20191209, end: 20191223
  569. CLOZARIL [Suspect]
     Active Substance: CLOZAPINE
     Route: 065
  570. CLOZARIL [Suspect]
     Active Substance: CLOZAPINE
     Route: 065
  571. CLOZARIL [Suspect]
     Active Substance: CLOZAPINE
  572. CLOZARIL [Suspect]
     Active Substance: CLOZAPINE
     Route: 048
     Dates: start: 20100823
  573. CLOZARIL [Suspect]
     Active Substance: CLOZAPINE
     Route: 048
  574. CLOZARIL [Suspect]
     Active Substance: CLOZAPINE
     Route: 048
  575. CLOZARIL [Suspect]
     Active Substance: CLOZAPINE
     Route: 048
  576. CLOZARIL [Suspect]
     Active Substance: CLOZAPINE
     Route: 048
  577. CLOZARIL [Suspect]
     Active Substance: CLOZAPINE
     Route: 065
  578. CLOZARIL [Suspect]
     Active Substance: CLOZAPINE
     Route: 048
     Dates: start: 20191209, end: 20191223
  579. CLOZARIL [Suspect]
     Active Substance: CLOZAPINE
     Route: 065
  580. CLOZARIL [Suspect]
     Active Substance: CLOZAPINE
     Route: 065
     Dates: start: 20191207
  581. CLOZARIL [Suspect]
     Active Substance: CLOZAPINE
     Route: 048
  582. CLOZARIL [Suspect]
     Active Substance: CLOZAPINE
     Route: 048
     Dates: start: 20191209, end: 20191223
  583. CLOZARIL [Suspect]
     Active Substance: CLOZAPINE
     Route: 048
  584. CLOZARIL [Suspect]
     Active Substance: CLOZAPINE
     Route: 065
     Dates: start: 20191223, end: 20191223
  585. CLOZARIL [Suspect]
     Active Substance: CLOZAPINE
     Route: 048
     Dates: start: 20191209, end: 20191223
  586. CLOZARIL [Suspect]
     Active Substance: CLOZAPINE
     Route: 048
     Dates: start: 20201207
  587. CLOZARIL [Suspect]
     Active Substance: CLOZAPINE
     Route: 048
     Dates: start: 20191209, end: 20191223
  588. CLOZARIL [Suspect]
     Active Substance: CLOZAPINE
     Route: 048
     Dates: start: 20100823, end: 20100823
  589. CLOZARIL [Suspect]
     Active Substance: CLOZAPINE
     Route: 065
  590. CLOZARIL [Suspect]
     Active Substance: CLOZAPINE
     Indication: Schizophrenia
  591. CLOZARIL [Suspect]
     Active Substance: CLOZAPINE
     Route: 048
     Dates: start: 20191223, end: 20191223
  592. CLOZARIL [Suspect]
     Active Substance: CLOZAPINE
  593. CLOZARIL [Suspect]
     Active Substance: CLOZAPINE
     Route: 048
     Dates: start: 20201207
  594. CLOZARIL [Suspect]
     Active Substance: CLOZAPINE
     Dates: start: 20191209, end: 20191223
  595. CLOZARIL [Suspect]
     Active Substance: CLOZAPINE
     Route: 048
     Dates: start: 20100823
  596. CLOZARIL [Suspect]
     Active Substance: CLOZAPINE
  597. CLOZARIL [Suspect]
     Active Substance: CLOZAPINE
  598. CLOZARIL [Suspect]
     Active Substance: CLOZAPINE
     Route: 048
     Dates: start: 20191223, end: 20191223
  599. CLOZARIL [Suspect]
     Active Substance: CLOZAPINE
     Dates: start: 20191209, end: 20191223
  600. CLOZARIL [Suspect]
     Active Substance: CLOZAPINE
     Dates: start: 20201207
  601. CLOZARIL [Suspect]
     Active Substance: CLOZAPINE
     Dates: start: 20200521
  602. CLOZARIL [Suspect]
     Active Substance: CLOZAPINE
     Dates: start: 20200521
  603. CLOZARIL [Suspect]
     Active Substance: CLOZAPINE
  604. CLOZARIL [Suspect]
     Active Substance: CLOZAPINE
     Dates: start: 2011
  605. CLOZARIL [Suspect]
     Active Substance: CLOZAPINE
     Dates: start: 2011
  606. CLOZARIL [Suspect]
     Active Substance: CLOZAPINE
  607. CLOZARIL [Suspect]
     Active Substance: CLOZAPINE
     Route: 048
  608. CLOZARIL [Suspect]
     Active Substance: CLOZAPINE
  609. CLOZARIL [Suspect]
     Active Substance: CLOZAPINE
  610. CLOZARIL [Suspect]
     Active Substance: CLOZAPINE
  611. CLOZARIL [Suspect]
     Active Substance: CLOZAPINE
  612. CLOZARIL [Suspect]
     Active Substance: CLOZAPINE
  613. CLOZARIL [Suspect]
     Active Substance: CLOZAPINE
     Route: 048
     Dates: start: 20200521
  614. CLOZARIL [Suspect]
     Active Substance: CLOZAPINE
     Dates: start: 20191209, end: 20191223
  615. CLOZARIL [Suspect]
     Active Substance: CLOZAPINE
  616. CLOZARIL [Suspect]
     Active Substance: CLOZAPINE
  617. CLOZARIL [Suspect]
     Active Substance: CLOZAPINE
     Route: 065
  618. CLOZARIL [Suspect]
     Active Substance: CLOZAPINE
     Dates: start: 20191223, end: 20191223
  619. CLOZARIL [Suspect]
     Active Substance: CLOZAPINE
     Dates: start: 20191209, end: 20191223
  620. CLOZARIL [Suspect]
     Active Substance: CLOZAPINE
  621. CLOZARIL [Suspect]
     Active Substance: CLOZAPINE
  622. CLOZARIL [Suspect]
     Active Substance: CLOZAPINE
  623. CLOZARIL [Suspect]
     Active Substance: CLOZAPINE
     Dates: start: 20100823
  624. CLOZARIL [Suspect]
     Active Substance: CLOZAPINE
     Route: 065
  625. CLOZARIL [Suspect]
     Active Substance: CLOZAPINE
  626. CLOZARIL [Suspect]
     Active Substance: CLOZAPINE
  627. CLOZARIL [Suspect]
     Active Substance: CLOZAPINE
  628. CLOZARIL [Suspect]
     Active Substance: CLOZAPINE
  629. CLOZARIL [Suspect]
     Active Substance: CLOZAPINE
  630. CLOZARIL [Suspect]
     Active Substance: CLOZAPINE
  631. CLOZARIL [Suspect]
     Active Substance: CLOZAPINE
     Dates: start: 20200521
  632. CLOZARIL [Suspect]
     Active Substance: CLOZAPINE
     Dates: start: 20191209, end: 20191223
  633. CLOZARIL [Suspect]
     Active Substance: CLOZAPINE
  634. CLOZARIL [Suspect]
     Active Substance: CLOZAPINE
  635. CLOZARIL [Suspect]
     Active Substance: CLOZAPINE
  636. CLOZARIL [Suspect]
     Active Substance: CLOZAPINE
  637. CLOZARIL [Suspect]
     Active Substance: CLOZAPINE
     Dates: start: 20191223, end: 20191223
  638. CLOZARIL [Suspect]
     Active Substance: CLOZAPINE
  639. CLOZARIL [Suspect]
     Active Substance: CLOZAPINE
     Dates: start: 20200521, end: 20201223
  640. CLOZARIL [Suspect]
     Active Substance: CLOZAPINE
     Indication: Product used for unknown indication
     Route: 048
     Dates: start: 20200521
  641. CLOZARIL [Suspect]
     Active Substance: CLOZAPINE
     Route: 048
     Dates: start: 20191207
  642. CLOZARIL [Suspect]
     Active Substance: CLOZAPINE
     Route: 048
     Dates: start: 2011
  643. CLOZARIL [Suspect]
     Active Substance: CLOZAPINE
     Route: 048
  644. CLOZARIL [Suspect]
     Active Substance: CLOZAPINE
     Route: 048
     Dates: start: 20200521, end: 20200521
  645. CLOZARIL [Suspect]
     Active Substance: CLOZAPINE
     Route: 048
  646. CLOZARIL [Suspect]
     Active Substance: CLOZAPINE
     Route: 048
     Dates: start: 20191209, end: 20191223
  647. CLOZARIL [Suspect]
     Active Substance: CLOZAPINE
     Route: 048
     Dates: start: 20201207
  648. CLOZARIL [Suspect]
     Active Substance: CLOZAPINE
     Route: 048
  649. CLOZARIL [Suspect]
     Active Substance: CLOZAPINE
     Route: 048
     Dates: start: 20191209, end: 20191223
  650. CLOZARIL [Suspect]
     Active Substance: CLOZAPINE
     Route: 048
     Dates: start: 20100823
  651. CLOZARIL [Suspect]
     Active Substance: CLOZAPINE
     Route: 048
     Dates: start: 20191223, end: 20191223
  652. CLOZARIL [Suspect]
     Active Substance: CLOZAPINE
     Route: 048
     Dates: start: 2011
  653. CLOZARIL [Suspect]
     Active Substance: CLOZAPINE
     Route: 048
  654. CLOZARIL [Suspect]
     Active Substance: CLOZAPINE
     Route: 048
     Dates: start: 20100823, end: 20100823
  655. CLOZARIL [Suspect]
     Active Substance: CLOZAPINE
     Route: 048
     Dates: start: 20200521
  656. CLOZARIL [Suspect]
     Active Substance: CLOZAPINE
     Route: 048
     Dates: start: 20200823
  657. CLOZARIL [Suspect]
     Active Substance: CLOZAPINE
     Route: 048
     Dates: start: 20200521, end: 20200521
  658. CLOZARIL [Suspect]
     Active Substance: CLOZAPINE
     Route: 048
     Dates: start: 20191209, end: 20191223
  659. CLOZARIL [Suspect]
     Active Substance: CLOZAPINE
     Route: 048
     Dates: start: 20191209, end: 20191223
  660. CLOZARIL [Suspect]
     Active Substance: CLOZAPINE
     Route: 048
     Dates: start: 20191223, end: 20191223
  661. CLOZARIL [Suspect]
     Active Substance: CLOZAPINE
     Route: 048
     Dates: start: 20191209, end: 20191223
  662. CLOZARIL [Suspect]
     Active Substance: CLOZAPINE
     Route: 048
     Dates: start: 20191209, end: 20191223
  663. CLOZARIL [Suspect]
     Active Substance: CLOZAPINE
     Route: 048
  664. CLOZARIL [Suspect]
     Active Substance: CLOZAPINE
     Route: 048
     Dates: start: 20201207
  665. CLOZARIL [Suspect]
     Active Substance: CLOZAPINE
     Route: 048
  666. CLOZARIL [Suspect]
     Active Substance: CLOZAPINE
     Dates: start: 2011
  667. CLOZARIL [Suspect]
     Active Substance: CLOZAPINE
     Route: 048
     Dates: start: 20200521
  668. CLOZARIL [Suspect]
     Active Substance: CLOZAPINE
     Route: 048
     Dates: start: 20191209, end: 20191223
  669. CLOZARIL [Suspect]
     Active Substance: CLOZAPINE
     Route: 048
     Dates: start: 20191223, end: 20191223
  670. CLOZARIL [Suspect]
     Active Substance: CLOZAPINE
     Route: 048
     Dates: start: 20191223, end: 20191223
  671. CLOZARIL [Suspect]
     Active Substance: CLOZAPINE
     Route: 048
     Dates: start: 20100823, end: 20100823
  672. CLOZARIL [Suspect]
     Active Substance: CLOZAPINE
     Route: 048
     Dates: start: 20200823, end: 20200823
  673. CLOZARIL [Suspect]
     Active Substance: CLOZAPINE
     Route: 048
     Dates: start: 20200521
  674. CLOZARIL [Suspect]
     Active Substance: CLOZAPINE
  675. CLOZARIL [Suspect]
     Active Substance: CLOZAPINE
     Route: 050
     Dates: start: 20100823
  676. CLOZARIL [Suspect]
     Active Substance: CLOZAPINE
     Route: 048
     Dates: start: 2011
  677. CLOZARIL [Suspect]
     Active Substance: CLOZAPINE
  678. CLOZARIL [Suspect]
     Active Substance: CLOZAPINE
     Dates: start: 20100823
  679. CLOZARIL [Suspect]
     Active Substance: CLOZAPINE
     Route: 048
  680. CLOZARIL [Suspect]
     Active Substance: CLOZAPINE
     Dates: start: 20191207, end: 20191223
  681. CLOZARIL [Suspect]
     Active Substance: CLOZAPINE
  682. CLOZARIL [Suspect]
     Active Substance: CLOZAPINE
  683. CLOZARIL [Suspect]
     Active Substance: CLOZAPINE
     Dates: start: 20191223, end: 20191223
  684. CLOZARIL [Suspect]
     Active Substance: CLOZAPINE
     Route: 050
     Dates: start: 20191209, end: 20191223
  685. CLOZARIL [Suspect]
     Active Substance: CLOZAPINE
     Route: 048
     Dates: start: 20201209, end: 20201223
  686. CLOZARIL [Suspect]
     Active Substance: CLOZAPINE
     Route: 048
     Dates: start: 20100823
  687. CLOZARIL [Suspect]
     Active Substance: CLOZAPINE
     Route: 048
     Dates: start: 20190823, end: 20190823
  688. CLOZARIL [Suspect]
     Active Substance: CLOZAPINE
     Route: 048
     Dates: start: 20200521
  689. CLOZARIL [Suspect]
     Active Substance: CLOZAPINE
     Route: 048
     Dates: start: 20200207
  690. CLOZARIL [Suspect]
     Active Substance: CLOZAPINE
     Indication: Product used for unknown indication
  691. CLOZARIL [Suspect]
     Active Substance: CLOZAPINE
     Dates: start: 20200521
  692. CLOZARIL [Suspect]
     Active Substance: CLOZAPINE
  693. CLOZARIL [Suspect]
     Active Substance: CLOZAPINE
     Route: 048
     Dates: start: 20191207
  694. CLOZARIL [Suspect]
     Active Substance: CLOZAPINE
     Route: 048
     Dates: start: 20191223, end: 20191223
  695. CLOZARIL [Suspect]
     Active Substance: CLOZAPINE
     Route: 048
     Dates: start: 20191209, end: 20191223
  696. CLOZARIL [Suspect]
     Active Substance: CLOZAPINE
     Route: 048
  697. CLOZARIL [Suspect]
     Active Substance: CLOZAPINE
  698. CLOZARIL [Suspect]
     Active Substance: CLOZAPINE
     Dates: start: 20191209, end: 20191223
  699. CLOZARIL [Suspect]
     Active Substance: CLOZAPINE
     Route: 048
     Dates: start: 20201207
  700. CLOZARIL [Suspect]
     Active Substance: CLOZAPINE
  701. CLOZARIL [Suspect]
     Active Substance: CLOZAPINE
     Route: 065
  702. CLOZARIL [Suspect]
     Active Substance: CLOZAPINE
     Route: 048
     Dates: start: 20220719
  703. CLOZARIL [Suspect]
     Active Substance: CLOZAPINE
  704. CLOZARIL [Suspect]
     Active Substance: CLOZAPINE
     Dates: start: 20201207
  705. CLOZARIL [Suspect]
     Active Substance: CLOZAPINE
  706. CLOZARIL [Suspect]
     Active Substance: CLOZAPINE
  707. CLOZARIL [Suspect]
     Active Substance: CLOZAPINE
  708. CLOZARIL [Suspect]
     Active Substance: CLOZAPINE
  709. CLOZARIL [Suspect]
     Active Substance: CLOZAPINE
  710. CLOZARIL [Suspect]
     Active Substance: CLOZAPINE
     Dates: start: 20201207
  711. CLOZARIL [Suspect]
     Active Substance: CLOZAPINE
     Dates: start: 20191209, end: 20191223
  712. CLOZARIL [Suspect]
     Active Substance: CLOZAPINE
     Route: 048
  713. CLOZARIL [Suspect]
     Active Substance: CLOZAPINE
  714. CLOZARIL [Suspect]
     Active Substance: CLOZAPINE
     Route: 065
  715. CLOZARIL [Suspect]
     Active Substance: CLOZAPINE
  716. CLOZARIL [Suspect]
     Active Substance: CLOZAPINE
  717. CLOZARIL [Suspect]
     Active Substance: CLOZAPINE
  718. CLOZARIL [Suspect]
     Active Substance: CLOZAPINE
     Route: 048
     Dates: start: 20191209, end: 20191223
  719. CLOZARIL [Suspect]
     Active Substance: CLOZAPINE
  720. CLOZARIL [Suspect]
     Active Substance: CLOZAPINE
  721. CLOZARIL [Suspect]
     Active Substance: CLOZAPINE
  722. CLOZARIL [Suspect]
     Active Substance: CLOZAPINE
     Route: 048
     Dates: start: 20191209, end: 20191223
  723. CLOZARIL [Suspect]
     Active Substance: CLOZAPINE
  724. CLOZARIL [Suspect]
     Active Substance: CLOZAPINE
     Dates: start: 20150930, end: 20151021
  725. CLOZARIL [Suspect]
     Active Substance: CLOZAPINE
     Route: 048
     Dates: start: 20100823
  726. CLOZARIL [Suspect]
     Active Substance: CLOZAPINE
     Route: 048
     Dates: start: 20191223, end: 20191223
  727. CLOZARIL [Suspect]
     Active Substance: CLOZAPINE
     Route: 048
     Dates: start: 20191209, end: 20191223
  728. CLOZARIL [Suspect]
     Active Substance: CLOZAPINE
     Dates: start: 20191223, end: 20191223
  729. CLOZARIL [Suspect]
     Active Substance: CLOZAPINE
  730. CLOZARIL [Suspect]
     Active Substance: CLOZAPINE
     Dates: start: 20191209, end: 20191223
  731. CLOZARIL [Suspect]
     Active Substance: CLOZAPINE
     Route: 065
  732. CLOZARIL [Suspect]
     Active Substance: CLOZAPINE
     Route: 048
  733. CLOZARIL [Suspect]
     Active Substance: CLOZAPINE
     Route: 048
     Dates: start: 2011
  734. CLOZARIL [Suspect]
     Active Substance: CLOZAPINE
     Route: 048
  735. CLOZARIL [Suspect]
     Active Substance: CLOZAPINE
     Route: 048
     Dates: start: 20201207
  736. CLOZARIL [Suspect]
     Active Substance: CLOZAPINE
     Route: 048
     Dates: start: 20201223, end: 20201223
  737. CLOZARIL [Suspect]
     Active Substance: CLOZAPINE
     Route: 048
     Dates: start: 20191223, end: 20191223
  738. CLOZARIL [Suspect]
     Active Substance: CLOZAPINE
     Route: 048
     Dates: start: 20191209
  739. CLOZARIL [Suspect]
     Active Substance: CLOZAPINE
     Route: 048
     Dates: start: 20201207
  740. CLOZARIL [Suspect]
     Active Substance: CLOZAPINE
     Indication: Schizophrenia
     Route: 048
     Dates: start: 20191209, end: 20191223
  741. CLOZARIL [Suspect]
     Active Substance: CLOZAPINE
     Indication: Schizophrenia
     Route: 048
     Dates: start: 2011
  742. CLOZARIL [Suspect]
     Active Substance: CLOZAPINE
     Route: 048
     Dates: start: 20201207
  743. CLOZARIL [Suspect]
     Active Substance: CLOZAPINE
     Route: 048
  744. CLOZARIL [Suspect]
     Active Substance: CLOZAPINE
  745. CLOZARIL [Suspect]
     Active Substance: CLOZAPINE
     Route: 048
     Dates: start: 20191209, end: 20191223
  746. CLOZARIL [Suspect]
     Active Substance: CLOZAPINE
     Route: 048
     Dates: start: 20191209, end: 20191223
  747. CLOZARIL [Suspect]
     Active Substance: CLOZAPINE
     Route: 048
     Dates: start: 20191209, end: 20191223
  748. CLOZARIL [Suspect]
     Active Substance: CLOZAPINE
     Route: 048
     Dates: start: 20201207
  749. CLOZARIL [Suspect]
     Active Substance: CLOZAPINE
     Dates: start: 20191207
  750. CLOZARIL [Suspect]
     Active Substance: CLOZAPINE
     Route: 048
     Dates: start: 20200521
  751. CLOZARIL [Suspect]
     Active Substance: CLOZAPINE
     Route: 048
     Dates: start: 2011
  752. CLOZARIL [Suspect]
     Active Substance: CLOZAPINE
     Route: 048
     Dates: start: 2011
  753. CLOZARIL [Suspect]
     Active Substance: CLOZAPINE
     Route: 048
     Dates: start: 20191223, end: 20191223
  754. CLOZARIL [Suspect]
     Active Substance: CLOZAPINE
     Route: 048
  755. CLOZARIL [Suspect]
     Active Substance: CLOZAPINE
     Route: 048
     Dates: start: 20191209, end: 20191223
  756. CLOZARIL [Suspect]
     Active Substance: CLOZAPINE
     Route: 048
  757. CLOZARIL [Suspect]
     Active Substance: CLOZAPINE
     Route: 048
     Dates: start: 20100823
  758. CLOZARIL [Suspect]
     Active Substance: CLOZAPINE
  759. CLOZARIL [Suspect]
     Active Substance: CLOZAPINE
     Route: 048
     Dates: start: 20100823, end: 20100823
  760. CLOZARIL [Suspect]
     Active Substance: CLOZAPINE
     Route: 048
  761. CLOZARIL [Suspect]
     Active Substance: CLOZAPINE
     Route: 048
     Dates: start: 20200521
  762. CLOZARIL [Suspect]
     Active Substance: CLOZAPINE
     Route: 048
     Dates: start: 2011
  763. CLOZARIL [Suspect]
     Active Substance: CLOZAPINE
     Route: 048
     Dates: start: 20100823
  764. CLOZARIL [Suspect]
     Active Substance: CLOZAPINE
     Route: 048
     Dates: start: 20200521
  765. CLOZARIL [Suspect]
     Active Substance: CLOZAPINE
     Route: 048
     Dates: start: 20100823
  766. CLOZARIL [Suspect]
     Active Substance: CLOZAPINE
  767. CLOZARIL [Suspect]
     Active Substance: CLOZAPINE
     Route: 048
     Dates: start: 20191209, end: 20191223
  768. CLOZARIL [Suspect]
     Active Substance: CLOZAPINE
     Route: 048
  769. CLOZARIL [Suspect]
     Active Substance: CLOZAPINE
     Route: 048
     Dates: start: 20190823, end: 20190823
  770. CLOZARIL [Suspect]
     Active Substance: CLOZAPINE
     Route: 048
  771. CLOZARIL [Suspect]
     Active Substance: CLOZAPINE
     Route: 048
     Dates: start: 20191223, end: 20191223
  772. CLOZARIL [Suspect]
     Active Substance: CLOZAPINE
     Route: 048
  773. CLOZARIL [Suspect]
     Active Substance: CLOZAPINE
     Route: 048
     Dates: start: 20191223, end: 20191223
  774. CLOZARIL [Suspect]
     Active Substance: CLOZAPINE
  775. CLOZARIL [Suspect]
     Active Substance: CLOZAPINE
     Route: 048
     Dates: start: 20100823
  776. CLOZARIL [Suspect]
     Active Substance: CLOZAPINE
     Route: 048
     Dates: start: 20201207
  777. CLOZARIL [Suspect]
     Active Substance: CLOZAPINE
     Route: 048
     Dates: start: 20200207
  778. CLOZARIL [Suspect]
     Active Substance: CLOZAPINE
     Route: 048
     Dates: start: 20190809, end: 20190823
  779. CLOZARIL [Suspect]
     Active Substance: CLOZAPINE
     Route: 048
     Dates: start: 20191207, end: 20191223
  780. CLOZARIL [Suspect]
     Active Substance: CLOZAPINE
     Route: 048
  781. CLOZARIL [Suspect]
     Active Substance: CLOZAPINE
     Route: 048
     Dates: start: 20200521, end: 2021
  782. CLOZARIL [Suspect]
     Active Substance: CLOZAPINE
     Route: 048
     Dates: start: 20201223, end: 20201223
  783. CLOZARIL [Suspect]
     Active Substance: CLOZAPINE
     Route: 048
  784. CLOZARIL [Suspect]
     Active Substance: CLOZAPINE
  785. CLOZARIL [Suspect]
     Active Substance: CLOZAPINE
     Dates: start: 2011
  786. CLOZARIL [Suspect]
     Active Substance: CLOZAPINE
     Route: 048
     Dates: start: 20100823, end: 20100823
  787. CLOZARIL [Suspect]
     Active Substance: CLOZAPINE
     Dates: start: 20100823, end: 20100823
  788. CLOZARIL [Suspect]
     Active Substance: CLOZAPINE
     Route: 048
     Dates: start: 2011
  789. CLOZARIL [Suspect]
     Active Substance: CLOZAPINE
     Route: 048
  790. CLOZARIL [Suspect]
     Active Substance: CLOZAPINE
     Indication: Schizophrenia
     Route: 050
     Dates: start: 20191209, end: 20191223
  791. CLOZARIL [Suspect]
     Active Substance: CLOZAPINE
  792. CLOZARIL [Suspect]
     Active Substance: CLOZAPINE
  793. CLOZARIL [Suspect]
     Active Substance: CLOZAPINE
  794. CLOZARIL [Suspect]
     Active Substance: CLOZAPINE
  795. CLOZARIL [Suspect]
     Active Substance: CLOZAPINE
  796. CLOZARIL [Suspect]
     Active Substance: CLOZAPINE
     Route: 048
     Dates: start: 20191207
  797. CLOZARIL [Suspect]
     Active Substance: CLOZAPINE
     Route: 048
     Dates: start: 20191209, end: 20191223
  798. CLOZARIL [Suspect]
     Active Substance: CLOZAPINE
     Route: 048
     Dates: start: 20191223, end: 20191223
  799. CLOZARIL [Suspect]
     Active Substance: CLOZAPINE
  800. CLOZARIL [Suspect]
     Active Substance: CLOZAPINE
     Route: 048
     Dates: start: 20100823
  801. CLOZARIL [Suspect]
     Active Substance: CLOZAPINE
     Dates: start: 20100823, end: 20100823
  802. CLOZARIL [Suspect]
     Active Substance: CLOZAPINE
     Dates: start: 20100823, end: 20200823
  803. CLOZARIL [Suspect]
     Active Substance: CLOZAPINE
     Dates: start: 20100823, end: 20100823
  804. CLOZARIL [Suspect]
     Active Substance: CLOZAPINE
     Dates: start: 20100823
  805. CLOZARIL [Suspect]
     Active Substance: CLOZAPINE
     Dates: start: 2011
  806. CLOZARIL [Suspect]
     Active Substance: CLOZAPINE
     Dates: start: 2011
  807. CLOZARIL [Suspect]
     Active Substance: CLOZAPINE
     Dates: start: 2011
  808. CLOZARIL [Suspect]
     Active Substance: CLOZAPINE
     Route: 050
     Dates: start: 20100823, end: 20100823
  809. CLOZARIL [Suspect]
     Active Substance: CLOZAPINE
     Dates: start: 20191207
  810. CLOZARIL [Suspect]
     Active Substance: CLOZAPINE
     Dates: start: 20191209, end: 20191223
  811. CLOZARIL [Suspect]
     Active Substance: CLOZAPINE
     Dates: start: 20191209, end: 20191223
  812. CLOZARIL [Suspect]
     Active Substance: CLOZAPINE
     Dates: start: 20191209, end: 20191223
  813. CLOZARIL [Suspect]
     Active Substance: CLOZAPINE
     Dates: start: 20100823, end: 20200823
  814. CLOZARIL [Suspect]
     Active Substance: CLOZAPINE
     Route: 048
     Dates: start: 20191209, end: 20191223
  815. CLOZARIL [Suspect]
     Active Substance: CLOZAPINE
     Route: 050
     Dates: start: 20191223, end: 20191223
  816. CLOZARIL [Suspect]
     Active Substance: CLOZAPINE
     Dates: start: 20191223, end: 20191223
  817. CLOZARIL [Suspect]
     Active Substance: CLOZAPINE
     Dates: start: 20191223
  818. CLOZARIL [Suspect]
     Active Substance: CLOZAPINE
     Dates: start: 20200521
  819. CLOZARIL [Suspect]
     Active Substance: CLOZAPINE
     Dates: start: 20200521
  820. CLOZARIL [Suspect]
     Active Substance: CLOZAPINE
     Dates: start: 20200521
  821. CLOZARIL [Suspect]
     Active Substance: CLOZAPINE
     Route: 050
     Dates: start: 20200521
  822. CLOZARIL [Suspect]
     Active Substance: CLOZAPINE
     Dates: start: 20200521
  823. CLOZARIL [Suspect]
     Active Substance: CLOZAPINE
     Dates: start: 20200521
  824. CLOZARIL [Suspect]
     Active Substance: CLOZAPINE
     Dates: start: 20200521
  825. CLOZARIL [Suspect]
     Active Substance: CLOZAPINE
     Dates: start: 20201207
  826. CLOZARIL [Suspect]
     Active Substance: CLOZAPINE
     Route: 050
     Dates: start: 20201207
  827. CLOZARIL [Suspect]
     Active Substance: CLOZAPINE
     Dates: start: 20201207
  828. CLOZARIL [Suspect]
     Active Substance: CLOZAPINE
     Dates: start: 20210521
  829. CLOZARIL [Suspect]
     Active Substance: CLOZAPINE
     Dates: start: 20220719
  830. CLOZARIL [Suspect]
     Active Substance: CLOZAPINE
     Dates: start: 20220719
  831. CLOZARIL [Suspect]
     Active Substance: CLOZAPINE
     Dates: start: 20230823
  832. CLOZARIL [Suspect]
     Active Substance: CLOZAPINE
     Route: 065
     Dates: start: 20100823
  833. CLOZARIL [Suspect]
     Active Substance: CLOZAPINE
     Route: 050
     Dates: start: 20230823, end: 20230823
  834. CLOZARIL [Suspect]
     Active Substance: CLOZAPINE
     Route: 050
     Dates: start: 20230823
  835. CLOZARIL [Suspect]
     Active Substance: CLOZAPINE
     Dates: start: 20220719
  836. CLOZARIL [Suspect]
     Active Substance: CLOZAPINE
     Route: 048
  837. CLOZARIL [Suspect]
     Active Substance: CLOZAPINE
     Route: 050
     Dates: start: 20191209, end: 20191223
  838. CLOZARIL [Suspect]
     Active Substance: CLOZAPINE
     Route: 050
     Dates: start: 20200521
  839. CLOZARIL [Suspect]
     Active Substance: CLOZAPINE
     Dates: start: 20201207
  840. CLOZARIL [Suspect]
     Active Substance: CLOZAPINE
     Indication: Product used for unknown indication
     Route: 048
     Dates: start: 20201209, end: 20201223
  841. CLOZARIL [Suspect]
     Active Substance: CLOZAPINE
     Indication: Schizophrenia
     Route: 048
     Dates: start: 20191223, end: 20191223
  842. CLOZARIL [Suspect]
     Active Substance: CLOZAPINE
     Route: 048
     Dates: start: 2011
  843. CLOZARIL [Suspect]
     Active Substance: CLOZAPINE
     Route: 048
     Dates: start: 20190809, end: 20190823
  844. CLOZARIL [Suspect]
     Active Substance: CLOZAPINE
     Route: 048
     Dates: start: 20201209, end: 20201223
  845. CLOZARIL [Suspect]
     Active Substance: CLOZAPINE
     Route: 048
     Dates: start: 20190823, end: 20190823
  846. CLOZARIL [Suspect]
     Active Substance: CLOZAPINE
     Route: 048
     Dates: start: 20200207
  847. CLOZARIL [Suspect]
     Active Substance: CLOZAPINE
     Route: 048
     Dates: start: 20191207
  848. CLOZARIL [Suspect]
     Active Substance: CLOZAPINE
     Route: 048
     Dates: start: 20191209, end: 20191223
  849. CLOZARIL [Suspect]
     Active Substance: CLOZAPINE
     Route: 048
     Dates: start: 20191207, end: 20191223
  850. CLOZARIL [Suspect]
     Active Substance: CLOZAPINE
     Route: 048
     Dates: start: 20190823, end: 20190823
  851. CLOZARIL [Suspect]
     Active Substance: CLOZAPINE
     Route: 048
     Dates: start: 20191223, end: 20191223
  852. CLOZARIL [Suspect]
     Active Substance: CLOZAPINE
     Route: 048
     Dates: start: 2011
  853. CLOZARIL [Suspect]
     Active Substance: CLOZAPINE
     Route: 048
     Dates: start: 20191209, end: 20191223
  854. CLOZARIL [Suspect]
     Active Substance: CLOZAPINE
     Route: 048
     Dates: start: 20201223, end: 20201223
  855. CLOZARIL [Suspect]
     Active Substance: CLOZAPINE
     Route: 048
     Dates: start: 20191209, end: 20191223
  856. CLOZARIL [Suspect]
     Active Substance: CLOZAPINE
     Route: 048
     Dates: start: 20191223, end: 20191223
  857. CLOZARIL [Suspect]
     Active Substance: CLOZAPINE
     Route: 048
     Dates: start: 2011
  858. CLOZARIL [Suspect]
     Active Substance: CLOZAPINE
     Route: 048
     Dates: start: 20100823
  859. CLOZARIL [Suspect]
     Active Substance: CLOZAPINE
     Route: 048
     Dates: start: 20191209, end: 20191223
  860. CLOZARIL [Suspect]
     Active Substance: CLOZAPINE
     Route: 048
     Dates: start: 20191209, end: 20191223
  861. CLOZARIL [Suspect]
     Active Substance: CLOZAPINE
     Route: 048
     Dates: start: 20201207
  862. CLOZARIL [Suspect]
     Active Substance: CLOZAPINE
     Route: 048
     Dates: start: 20200521, end: 20200521
  863. CLOZARIL [Suspect]
     Active Substance: CLOZAPINE
     Route: 048
     Dates: start: 20200521
  864. CLOZARIL [Suspect]
     Active Substance: CLOZAPINE
     Route: 048
     Dates: start: 20200521
  865. CLOZARIL [Suspect]
     Active Substance: CLOZAPINE
     Route: 048
     Dates: start: 20200521
  866. CLOZARIL [Suspect]
     Active Substance: CLOZAPINE
     Route: 048
     Dates: start: 20200207
  867. CLOZARIL [Suspect]
     Active Substance: CLOZAPINE
     Route: 048
     Dates: start: 20191207
  868. CLOZARIL [Suspect]
     Active Substance: CLOZAPINE
     Route: 048
     Dates: start: 20100823
  869. CLOZARIL [Suspect]
     Active Substance: CLOZAPINE
     Route: 048
     Dates: start: 20191223, end: 20191223
  870. CLOZARIL [Suspect]
     Active Substance: CLOZAPINE
     Route: 048
     Dates: start: 20200521
  871. CLOZARIL [Suspect]
     Active Substance: CLOZAPINE
     Route: 048
     Dates: start: 20200521, end: 2021
  872. CLOZARIL [Suspect]
     Active Substance: CLOZAPINE
     Route: 048
     Dates: start: 2011
  873. CLOZARIL [Suspect]
     Active Substance: CLOZAPINE
     Route: 048
     Dates: start: 20200521
  874. CLOZARIL [Suspect]
     Active Substance: CLOZAPINE
     Route: 048
  875. CLOZARIL [Suspect]
     Active Substance: CLOZAPINE
     Route: 048
     Dates: start: 20201207
  876. CLOZARIL [Suspect]
     Active Substance: CLOZAPINE
     Route: 048
  877. CLOZARIL [Suspect]
     Active Substance: CLOZAPINE
     Dates: start: 2011
  878. CLOZARIL [Suspect]
     Active Substance: CLOZAPINE
     Route: 048
     Dates: start: 20191209, end: 20191223
  879. CLOZARIL [Suspect]
     Active Substance: CLOZAPINE
  880. CLOZARIL [Suspect]
     Active Substance: CLOZAPINE
     Route: 048
  881. CLOZARIL [Suspect]
     Active Substance: CLOZAPINE
     Route: 048
  882. CLOZARIL [Suspect]
     Active Substance: CLOZAPINE
     Route: 048
  883. CLOZARIL [Suspect]
     Active Substance: CLOZAPINE
     Dates: start: 20191209, end: 20191223
  884. CLOZARIL [Suspect]
     Active Substance: CLOZAPINE
     Route: 048
  885. CLOZARIL [Suspect]
     Active Substance: CLOZAPINE
     Route: 048
     Dates: start: 20100823
  886. CLOZARIL [Suspect]
     Active Substance: CLOZAPINE
     Route: 048
  887. CLOZARIL [Suspect]
     Active Substance: CLOZAPINE
     Route: 048
     Dates: start: 20201209, end: 20201223
  888. CLOZARIL [Suspect]
     Active Substance: CLOZAPINE
     Route: 048
     Dates: start: 20191209, end: 20191223
  889. CLOZARIL [Suspect]
     Active Substance: CLOZAPINE
     Route: 048
     Dates: start: 20191209, end: 20191223
  890. CLOZARIL [Suspect]
     Active Substance: CLOZAPINE
     Dates: start: 2011
  891. CLOZARIL [Suspect]
     Active Substance: CLOZAPINE
     Indication: Schizophrenia
     Route: 048
     Dates: start: 20191209, end: 20191223
  892. CLOZARIL [Suspect]
     Active Substance: CLOZAPINE
     Indication: Schizophrenia
     Route: 048
     Dates: start: 20200521
  893. CLOZARIL [Suspect]
     Active Substance: CLOZAPINE
     Dates: start: 20200521
  894. CLOZARIL [Suspect]
     Active Substance: CLOZAPINE
     Route: 048
     Dates: start: 20191207, end: 20191223
  895. CLOZARIL [Suspect]
     Active Substance: CLOZAPINE
     Route: 048
     Dates: start: 20191223, end: 20191223
  896. CLOZARIL [Suspect]
     Active Substance: CLOZAPINE
     Dates: start: 20200521
  897. CLOZARIL [Suspect]
     Active Substance: CLOZAPINE
     Route: 048
     Dates: start: 20210823
  898. CLOZARIL [Suspect]
     Active Substance: CLOZAPINE
     Route: 048
     Dates: start: 20191223, end: 20191223
  899. CLOZARIL [Suspect]
     Active Substance: CLOZAPINE
     Route: 048
     Dates: start: 20201207
  900. CLOZARIL [Suspect]
     Active Substance: CLOZAPINE
     Dates: start: 20201207
  901. CLOZARIL [Suspect]
     Active Substance: CLOZAPINE
     Route: 048
  902. CLOZARIL [Suspect]
     Active Substance: CLOZAPINE
     Dates: start: 20191209, end: 20191223
  903. CLOZARIL [Suspect]
     Active Substance: CLOZAPINE
     Dates: start: 20191223, end: 20191223
  904. CLOZARIL [Suspect]
     Active Substance: CLOZAPINE
     Route: 048
     Dates: start: 2021
  905. CLOZARIL [Suspect]
     Active Substance: CLOZAPINE
     Route: 048
     Dates: start: 20191209
  906. CLOZARIL [Suspect]
     Active Substance: CLOZAPINE
     Route: 048
     Dates: start: 2020
  907. CLOZARIL [Suspect]
     Active Substance: CLOZAPINE
     Route: 048
     Dates: start: 20201207
  908. CLOZARIL [Suspect]
     Active Substance: CLOZAPINE
     Route: 048
     Dates: start: 2011
  909. CLOZARIL [Suspect]
     Active Substance: CLOZAPINE
     Route: 048
     Dates: start: 20191223
  910. CLOZARIL [Suspect]
     Active Substance: CLOZAPINE
     Route: 048
     Dates: start: 20200521, end: 2021
  911. CLOZARIL [Suspect]
     Active Substance: CLOZAPINE
     Route: 048
  912. CLOZARIL [Suspect]
     Active Substance: CLOZAPINE
     Route: 048
     Dates: start: 20201207
  913. CLOZARIL [Suspect]
     Active Substance: CLOZAPINE
     Route: 048
     Dates: start: 20191223, end: 20191223
  914. CLOZARIL [Suspect]
     Active Substance: CLOZAPINE
     Route: 048
     Dates: start: 20191219, end: 20191223
  915. CLOZARIL [Suspect]
     Active Substance: CLOZAPINE
     Route: 048
     Dates: start: 20201207
  916. CLOZARIL [Suspect]
     Active Substance: CLOZAPINE
     Route: 048
     Dates: start: 20191223
  917. CLOZARIL [Suspect]
     Active Substance: CLOZAPINE
  918. CLOZARIL [Suspect]
     Active Substance: CLOZAPINE
     Route: 048
  919. CLOZARIL [Suspect]
     Active Substance: CLOZAPINE
     Route: 048
     Dates: start: 20191209, end: 20191223
  920. CLOZARIL [Suspect]
     Active Substance: CLOZAPINE
     Route: 048
     Dates: start: 20191209
  921. CLOZARIL [Suspect]
     Active Substance: CLOZAPINE
     Dates: start: 20191207
  922. CLOZARIL [Suspect]
     Active Substance: CLOZAPINE
     Route: 048
     Dates: start: 20200521
  923. CLOZARIL [Suspect]
     Active Substance: CLOZAPINE
     Route: 048
     Dates: start: 20100823
  924. CLOZARIL [Suspect]
     Active Substance: CLOZAPINE
  925. CLOZARIL [Suspect]
     Active Substance: CLOZAPINE
     Dates: start: 20191223, end: 20191223
  926. CLOZARIL [Suspect]
     Active Substance: CLOZAPINE
  927. CLOZARIL [Suspect]
     Active Substance: CLOZAPINE
  928. CLOZARIL [Suspect]
     Active Substance: CLOZAPINE
     Route: 048
  929. CLOZARIL [Suspect]
     Active Substance: CLOZAPINE
     Indication: Schizophrenia
     Route: 048
     Dates: start: 20100823
  930. CLOZARIL [Suspect]
     Active Substance: CLOZAPINE
     Route: 048
     Dates: start: 20100823
  931. CLOZARIL [Suspect]
     Active Substance: CLOZAPINE
     Route: 065
     Dates: start: 20100823, end: 20100823
  932. CLOZARIL [Suspect]
     Active Substance: CLOZAPINE
     Route: 048
     Dates: start: 20100823
  933. CLOZARIL [Suspect]
     Active Substance: CLOZAPINE
     Route: 048
     Dates: start: 20100823, end: 20200823
  934. CLOZARIL [Suspect]
     Active Substance: CLOZAPINE
     Route: 048
     Dates: start: 20100823, end: 20100823
  935. CLOZARIL [Suspect]
     Active Substance: CLOZAPINE
     Route: 048
     Dates: start: 20100823
  936. CLOZARIL [Suspect]
     Active Substance: CLOZAPINE
     Route: 065
     Dates: start: 2011
  937. CLOZARIL [Suspect]
     Active Substance: CLOZAPINE
     Route: 065
     Dates: start: 2011
  938. CLOZARIL [Suspect]
     Active Substance: CLOZAPINE
     Route: 065
     Dates: start: 20191207, end: 20191223
  939. CLOZARIL [Suspect]
     Active Substance: CLOZAPINE
     Route: 048
     Dates: start: 20191209
  940. CLOZARIL [Suspect]
     Active Substance: CLOZAPINE
     Route: 048
     Dates: start: 20191209, end: 20191223
  941. CLOZARIL [Suspect]
     Active Substance: CLOZAPINE
     Route: 048
     Dates: start: 20191209, end: 20191223
  942. CLOZARIL [Suspect]
     Active Substance: CLOZAPINE
     Route: 048
     Dates: start: 20191209, end: 20191223
  943. CLOZARIL [Suspect]
     Active Substance: CLOZAPINE
     Route: 065
     Dates: start: 20191209, end: 20191223
  944. CLOZARIL [Suspect]
     Active Substance: CLOZAPINE
     Route: 048
     Dates: start: 20191209, end: 20191223
  945. CLOZARIL [Suspect]
     Active Substance: CLOZAPINE
     Route: 048
     Dates: start: 20191223, end: 20191223
  946. CLOZARIL [Suspect]
     Active Substance: CLOZAPINE
     Route: 048
     Dates: start: 20191223, end: 20191223
  947. CLOZARIL [Suspect]
     Active Substance: CLOZAPINE
     Route: 048
     Dates: start: 20200521
  948. CLOZARIL [Suspect]
     Active Substance: CLOZAPINE
     Route: 065
     Dates: start: 20200521
  949. CLOZARIL [Suspect]
     Active Substance: CLOZAPINE
     Route: 048
     Dates: start: 20200521, end: 2020
  950. CLOZARIL [Suspect]
     Active Substance: CLOZAPINE
     Route: 048
     Dates: start: 20200521
  951. CLOZARIL [Suspect]
     Active Substance: CLOZAPINE
     Route: 065
     Dates: start: 20200521
  952. CLOZARIL [Suspect]
     Active Substance: CLOZAPINE
     Route: 065
  953. CLOZARIL [Suspect]
     Active Substance: CLOZAPINE
     Route: 065
  954. CLOZARIL [Suspect]
     Active Substance: CLOZAPINE
     Route: 048
     Dates: start: 20200521, end: 2020
  955. CLOZARIL [Suspect]
     Active Substance: CLOZAPINE
     Route: 048
     Dates: start: 20200521
  956. CLOZARIL [Suspect]
     Active Substance: CLOZAPINE
     Route: 048
     Dates: start: 20200521, end: 2021
  957. CLOZARIL [Suspect]
     Active Substance: CLOZAPINE
     Route: 048
     Dates: start: 20200521
  958. CLOZARIL [Suspect]
     Active Substance: CLOZAPINE
     Route: 048
     Dates: start: 20200521
  959. CLOZARIL [Suspect]
     Active Substance: CLOZAPINE
     Route: 048
     Dates: start: 20200521, end: 2020
  960. CLOZARIL [Suspect]
     Active Substance: CLOZAPINE
     Route: 065
     Dates: start: 20201207
  961. CLOZARIL [Suspect]
     Active Substance: CLOZAPINE
     Route: 048
     Dates: start: 20201207
  962. CLOZARIL [Suspect]
     Active Substance: CLOZAPINE
     Route: 048
     Dates: start: 20201207
  963. CLOZARIL [Suspect]
     Active Substance: CLOZAPINE
     Route: 048
     Dates: start: 20201207
  964. CLOZARIL [Suspect]
     Active Substance: CLOZAPINE
     Route: 048
     Dates: start: 20201207
  965. CLOZARIL [Suspect]
     Active Substance: CLOZAPINE
     Route: 065
  966. CLOZARIL [Suspect]
     Active Substance: CLOZAPINE
     Route: 048
  967. CLOZARIL [Suspect]
     Active Substance: CLOZAPINE
     Route: 048
     Dates: end: 20191223
  968. CLOZARIL [Suspect]
     Active Substance: CLOZAPINE
     Route: 050
  969. CLOZARIL [Suspect]
     Active Substance: CLOZAPINE
     Route: 048
  970. CLOZARIL [Suspect]
     Active Substance: CLOZAPINE
     Route: 065
  971. CLOZARIL [Suspect]
     Active Substance: CLOZAPINE
     Route: 048
     Dates: end: 20220719
  972. CLOZARIL [Suspect]
     Active Substance: CLOZAPINE
     Route: 065
     Dates: start: 20200521
  973. CLOZARIL [Suspect]
     Active Substance: CLOZAPINE
     Route: 065
     Dates: start: 20191209, end: 20191223
  974. CLOZARIL [Suspect]
     Active Substance: CLOZAPINE
     Dates: start: 2011
  975. CLOZARIL [Suspect]
     Active Substance: CLOZAPINE
     Route: 048
     Dates: start: 20100823
  976. CLOZARIL [Suspect]
     Active Substance: CLOZAPINE
     Route: 048
     Dates: start: 20191223, end: 20191223
  977. CLOZARIL [Suspect]
     Active Substance: CLOZAPINE
     Route: 048
     Dates: start: 20201207
  978. CLOZARIL [Suspect]
     Active Substance: CLOZAPINE
  979. CLOZARIL [Suspect]
     Active Substance: CLOZAPINE
     Indication: Schizophrenia
  980. CLOZARIL [Suspect]
     Active Substance: CLOZAPINE
  981. CLOZARIL [Suspect]
     Active Substance: CLOZAPINE
     Route: 050
     Dates: start: 20200521
  982. CLOZARIL [Suspect]
     Active Substance: CLOZAPINE
     Route: 048
     Dates: start: 20191207
  983. CLOZARIL [Suspect]
     Active Substance: CLOZAPINE
     Route: 050
     Dates: start: 20100823, end: 20100823
  984. CLOZARIL [Suspect]
     Active Substance: CLOZAPINE
     Route: 050
  985. CLOZARIL [Suspect]
     Active Substance: CLOZAPINE
     Route: 050
  986. CLOZARIL [Suspect]
     Active Substance: CLOZAPINE
     Route: 050
     Dates: start: 20201207
  987. CLOZARIL [Suspect]
     Active Substance: CLOZAPINE
     Route: 048
     Dates: start: 20201207
  988. CLOZARIL [Suspect]
     Active Substance: CLOZAPINE
     Route: 048
     Dates: start: 20200521, end: 20200521
  989. CLOZARIL [Suspect]
     Active Substance: CLOZAPINE
     Route: 048
     Dates: start: 2011
  990. CLOZARIL [Suspect]
     Active Substance: CLOZAPINE
     Route: 048
     Dates: start: 20191223, end: 20191223
  991. CLOZARIL [Suspect]
     Active Substance: CLOZAPINE
     Route: 048
     Dates: start: 20190823, end: 20190823
  992. CLOZARIL [Suspect]
     Active Substance: CLOZAPINE
     Route: 050
     Dates: start: 20201207
  993. CLOZARIL [Suspect]
     Active Substance: CLOZAPINE
     Route: 048
     Dates: start: 20191223, end: 20191223
  994. CLOZARIL [Suspect]
     Active Substance: CLOZAPINE
     Route: 048
     Dates: start: 20191209, end: 20191223
  995. CLOZARIL [Suspect]
     Active Substance: CLOZAPINE
     Route: 050
     Dates: start: 20201207
  996. CLOZARIL [Suspect]
     Active Substance: CLOZAPINE
     Route: 048
     Dates: start: 20201209, end: 20201223
  997. CLOZARIL [Suspect]
     Active Substance: CLOZAPINE
     Route: 048
     Dates: start: 20190809, end: 20190823
  998. CLOZARIL [Suspect]
     Active Substance: CLOZAPINE
     Route: 048
     Dates: start: 20191207
  999. CLOZARIL [Suspect]
     Active Substance: CLOZAPINE
     Route: 048
     Dates: start: 2011
  1000. CLOZARIL [Suspect]
     Active Substance: CLOZAPINE
     Route: 050
     Dates: start: 20220719
  1001. CLOZARIL [Suspect]
     Active Substance: CLOZAPINE
     Route: 048
     Dates: start: 2011
  1002. CLOZARIL [Suspect]
     Active Substance: CLOZAPINE
     Route: 048
     Dates: start: 20190823, end: 20190823
  1003. CLOZARIL [Suspect]
     Active Substance: CLOZAPINE
     Route: 048
     Dates: start: 20191209, end: 20191223
  1004. CLOZARIL [Suspect]
     Active Substance: CLOZAPINE
     Route: 048
     Dates: start: 20191207, end: 20191223
  1005. CLOZARIL [Suspect]
     Active Substance: CLOZAPINE
     Route: 048
     Dates: start: 2021
  1006. CLOZARIL [Suspect]
     Active Substance: CLOZAPINE
     Route: 065
  1007. CLOZARIL [Suspect]
     Active Substance: CLOZAPINE
     Route: 048
     Dates: start: 20191223, end: 20191223
  1008. CLOZARIL [Suspect]
     Active Substance: CLOZAPINE
     Route: 048
     Dates: start: 20191223, end: 20191223
  1009. CLOZARIL [Suspect]
     Active Substance: CLOZAPINE
     Route: 048
     Dates: start: 20200207
  1010. CLOZARIL [Suspect]
     Active Substance: CLOZAPINE
     Route: 048
     Dates: start: 20200521, end: 2021
  1011. CLOZARIL [Suspect]
     Active Substance: CLOZAPINE
     Route: 048
     Dates: start: 20100823
  1012. CLOZARIL [Suspect]
     Active Substance: CLOZAPINE
     Route: 050
  1013. CLOZARIL [Suspect]
     Active Substance: CLOZAPINE
     Route: 065
     Dates: start: 20100823
  1014. CLOZARIL [Suspect]
     Active Substance: CLOZAPINE
     Route: 050
  1015. CLOZARIL [Suspect]
     Active Substance: CLOZAPINE
     Route: 048
     Dates: start: 20201223, end: 20201223
  1016. CLOZARIL [Suspect]
     Active Substance: CLOZAPINE
     Route: 048
     Dates: start: 20200521
  1017. CLOZARIL [Suspect]
     Active Substance: CLOZAPINE
     Route: 048
     Dates: start: 20191209, end: 20191223
  1018. CLOZARIL [Suspect]
     Active Substance: CLOZAPINE
     Route: 048
     Dates: end: 20200521
  1019. CLOZARIL [Suspect]
     Active Substance: CLOZAPINE
     Route: 050
  1020. CLOZARIL [Suspect]
     Active Substance: CLOZAPINE
     Route: 050
  1021. CLOZARIL [Suspect]
     Active Substance: CLOZAPINE
     Route: 050
     Dates: start: 20191209, end: 20191223
  1022. CLOZARIL [Suspect]
     Active Substance: CLOZAPINE
     Route: 050
     Dates: start: 20200521
  1023. CLOZARIL [Suspect]
     Active Substance: CLOZAPINE
     Route: 048
     Dates: start: 20191209, end: 20191223
  1024. CLOZARIL [Suspect]
     Active Substance: CLOZAPINE
     Route: 048
     Dates: start: 20100823
  1025. CLOZARIL [Suspect]
     Active Substance: CLOZAPINE
     Route: 048
     Dates: start: 20200207
  1026. CLOZARIL [Suspect]
     Active Substance: CLOZAPINE
     Route: 048
     Dates: start: 20191209, end: 20191223
  1027. DOCETAXEL [Suspect]
     Active Substance: DOCETAXEL
     Indication: Breast cancer metastatic
     Dates: start: 20151222
  1028. DOCETAXEL [Suspect]
     Active Substance: DOCETAXEL
     Dosage: 110 MILLIGRAM, Q3W (CUMULATIVE DOSE: 324.98)/30-SEP-2015
     Route: 042
     Dates: start: 20150930, end: 20151021
  1029. DOCETAXEL [Suspect]
     Active Substance: DOCETAXEL
     Route: 042
     Dates: start: 20150930, end: 20151021
  1030. DOCETAXEL [Suspect]
     Active Substance: DOCETAXEL
     Route: 065
     Dates: start: 20150930, end: 20151021
  1031. DOCETAXEL [Suspect]
     Active Substance: DOCETAXEL
     Route: 065
  1032. DOCETAXEL [Suspect]
     Active Substance: DOCETAXEL
     Route: 065
     Dates: start: 20151222
  1033. DOCETAXEL [Suspect]
     Active Substance: DOCETAXEL
     Route: 065
     Dates: start: 20151222
  1034. DOCETAXEL [Suspect]
     Active Substance: DOCETAXEL
     Route: 065
     Dates: start: 20151222
  1035. DOCETAXEL [Suspect]
     Active Substance: DOCETAXEL
     Route: 065
  1036. DOCETAXEL [Suspect]
     Active Substance: DOCETAXEL
     Route: 065
     Dates: start: 20151222
  1037. DOCETAXEL [Suspect]
     Active Substance: DOCETAXEL
     Route: 065
     Dates: start: 20150930, end: 20151021
  1038. DOCETAXEL [Suspect]
     Active Substance: DOCETAXEL
     Route: 065
     Dates: start: 20150930, end: 20151021
  1039. DOCETAXEL [Suspect]
     Active Substance: DOCETAXEL
  1040. DOCETAXEL [Suspect]
     Active Substance: DOCETAXEL
     Dates: start: 20150930, end: 20151021
  1041. DOCETAXEL [Suspect]
     Active Substance: DOCETAXEL
     Route: 065
  1042. DOCETAXEL [Suspect]
     Active Substance: DOCETAXEL
     Indication: Breast cancer metastatic
     Route: 065
  1043. DOCETAXEL [Suspect]
     Active Substance: DOCETAXEL
  1044. DOCETAXEL [Suspect]
     Active Substance: DOCETAXEL
     Route: 065
     Dates: start: 20151222
  1045. DOCETAXEL [Suspect]
     Active Substance: DOCETAXEL
     Dates: start: 20150930, end: 20151021
  1046. DOCETAXEL [Suspect]
     Active Substance: DOCETAXEL
     Route: 050
     Dates: start: 20151222
  1047. DOCETAXEL [Suspect]
     Active Substance: DOCETAXEL
     Route: 050
     Dates: start: 20150930, end: 20151021
  1048. DOCETAXEL [Suspect]
     Active Substance: DOCETAXEL
     Dates: start: 20150930, end: 20151021
  1049. DOCETAXEL [Suspect]
     Active Substance: DOCETAXEL
  1050. DOCETAXEL [Suspect]
     Active Substance: DOCETAXEL
  1051. RISPERDAL [Suspect]
     Active Substance: RISPERIDONE
     Indication: Schizophrenia
     Route: 048
  1052. RISPERDAL [Suspect]
     Active Substance: RISPERIDONE
     Indication: Schizophrenia
     Route: 065
  1053. RISPERDAL [Suspect]
     Active Substance: RISPERIDONE
     Route: 048
  1054. RISPERDAL [Suspect]
     Active Substance: RISPERIDONE
     Route: 048
  1055. RISPERDAL [Suspect]
     Active Substance: RISPERIDONE
     Route: 048
  1056. RISPERDAL [Suspect]
     Active Substance: RISPERIDONE
     Route: 048
  1057. RISPERDAL [Suspect]
     Active Substance: RISPERIDONE
  1058. RISPERDAL [Suspect]
     Active Substance: RISPERIDONE
     Route: 048
  1059. RISPERDAL [Suspect]
     Active Substance: RISPERIDONE
     Route: 048
  1060. RISPERDAL [Suspect]
     Active Substance: RISPERIDONE
     Route: 065
  1061. RISPERDAL [Suspect]
     Active Substance: RISPERIDONE
  1062. RISPERDAL [Suspect]
     Active Substance: RISPERIDONE
     Route: 048
  1063. RISPERDAL [Suspect]
     Active Substance: RISPERIDONE
  1064. RISPERDAL [Suspect]
     Active Substance: RISPERIDONE
  1065. RISPERDAL [Suspect]
     Active Substance: RISPERIDONE
  1066. RISPERDAL [Suspect]
     Active Substance: RISPERIDONE
  1067. RISPERDAL [Suspect]
     Active Substance: RISPERIDONE
  1068. RISPERDAL [Suspect]
     Active Substance: RISPERIDONE
  1069. RISPERDAL [Suspect]
     Active Substance: RISPERIDONE
  1070. RISPERDAL [Suspect]
     Active Substance: RISPERIDONE
  1071. RISPERDAL [Suspect]
     Active Substance: RISPERIDONE
  1072. RISPERDAL [Suspect]
     Active Substance: RISPERIDONE
  1073. RISPERDAL [Suspect]
     Active Substance: RISPERIDONE
     Route: 048
  1074. RISPERDAL [Suspect]
     Active Substance: RISPERIDONE
  1075. RISPERDAL [Suspect]
     Active Substance: RISPERIDONE
     Route: 048
  1076. RISPERDAL [Suspect]
     Active Substance: RISPERIDONE
     Route: 048
  1077. RISPERDAL [Suspect]
     Active Substance: RISPERIDONE
     Route: 048
  1078. RISPERDAL [Suspect]
     Active Substance: RISPERIDONE
     Route: 048
  1079. RISPERIDONE [Suspect]
     Active Substance: RISPERIDONE
     Indication: Schizophrenia
  1080. RISPERIDONE [Suspect]
     Active Substance: RISPERIDONE
     Route: 048
  1081. RISPERIDONE [Suspect]
     Active Substance: RISPERIDONE
     Route: 048
  1082. RISPERIDONE [Suspect]
     Active Substance: RISPERIDONE
     Route: 048
  1083. RISPERIDONE [Suspect]
     Active Substance: RISPERIDONE
     Route: 048
  1084. RISPERIDONE [Suspect]
     Active Substance: RISPERIDONE
     Route: 048
  1085. RISPERIDONE [Suspect]
     Active Substance: RISPERIDONE
     Route: 048
  1086. RISPERIDONE [Suspect]
     Active Substance: RISPERIDONE
     Route: 048
  1087. RISPERIDONE [Suspect]
     Active Substance: RISPERIDONE
     Route: 048
  1088. RISPERIDONE [Suspect]
     Active Substance: RISPERIDONE
     Route: 048
  1089. RISPERIDONE [Suspect]
     Active Substance: RISPERIDONE
     Route: 048
  1090. RISPERIDONE [Suspect]
     Active Substance: RISPERIDONE
     Route: 065
  1091. RISPERIDONE [Suspect]
     Active Substance: RISPERIDONE
     Route: 065
  1092. RISPERIDONE [Suspect]
     Active Substance: RISPERIDONE
     Route: 065
  1093. RISPERIDONE [Suspect]
     Active Substance: RISPERIDONE
     Route: 065
  1094. ZUCLOPENTHIXOL [Suspect]
     Active Substance: ZUCLOPENTHIXOL
     Indication: Product used for unknown indication
     Dosage: 400 MILLIGRAM, QWK (ADDITIONAL INFO: OFF LABEL USE) (ADDITIONAL INFORMATION ON DRUG (FREE TEXT): CLO
     Route: 048
     Dates: start: 20040217, end: 20040601
  1095. ZUCLOPENTHIXOL [Suspect]
     Active Substance: ZUCLOPENTHIXOL
     Route: 048
     Dates: start: 20040217, end: 20040601
  1096. ZUCLOPENTHIXOL [Suspect]
     Active Substance: ZUCLOPENTHIXOL
     Dosage: 300 MG, QW/ 300 MILLIGRAM, QWK (ADDITIONAL INFORMATION ON DRUG (FREE TEXT): CLOZARIL, ADDITIONAL INF
     Route: 048
     Dates: start: 20091018
  1097. ZUCLOPENTHIXOL [Suspect]
     Active Substance: ZUCLOPENTHIXOL
     Dosage: 300 MG, QW
     Route: 065
  1098. ZUCLOPENTHIXOL [Suspect]
     Active Substance: ZUCLOPENTHIXOL
     Dosage: 800 MG, QW/ 800 MILLIGRAM, QWK (ADDITIONAL INFORMATION ON DRUG (FREE TEXT): CLOZARIL, ADDITIONAL INF
     Route: 048
     Dates: start: 20030204, end: 20040217
  1099. ZUCLOPENTHIXOL [Suspect]
     Active Substance: ZUCLOPENTHIXOL
     Dosage: 800 MG, QW
     Dates: start: 20041018
  1100. ZUCLOPENTHIXOL [Suspect]
     Active Substance: ZUCLOPENTHIXOL
     Route: 030
     Dates: start: 20091009
  1101. OLANZAPINE [Suspect]
     Active Substance: OLANZAPINE
     Indication: Schizophrenia
     Route: 048
     Dates: start: 20040217
  1102. OLANZAPINE [Suspect]
     Active Substance: OLANZAPINE
     Indication: Schizophrenia
     Route: 048
  1103. OLANZAPINE [Suspect]
     Active Substance: OLANZAPINE
     Route: 048
     Dates: start: 20060704
  1104. OLANZAPINE [Suspect]
     Active Substance: OLANZAPINE
     Route: 048
     Dates: start: 20080823
  1105. OLANZAPINE [Suspect]
     Active Substance: OLANZAPINE
     Route: 048
     Dates: start: 20040217
  1106. OLANZAPINE [Suspect]
     Active Substance: OLANZAPINE
     Route: 048
  1107. OLANZAPINE [Suspect]
     Active Substance: OLANZAPINE
     Route: 048
  1108. OLANZAPINE [Suspect]
     Active Substance: OLANZAPINE
     Route: 048
  1109. OLANZAPINE [Suspect]
     Active Substance: OLANZAPINE
     Route: 065
  1110. CALCIUM\CHOLECALCIFEROL [Concomitant]
     Active Substance: CALCIUM\CHOLECALCIFEROL
     Indication: Product used for unknown indication
     Route: 065
     Dates: start: 20091018
  1111. MORPHINE SULFATE [Concomitant]
     Active Substance: MORPHINE SULFATE
     Indication: Product used for unknown indication
     Route: 065
     Dates: start: 201509
  1112. MORPHINE SULFATE [Concomitant]
     Active Substance: MORPHINE SULFATE
     Dosage: 10 MG, 1/WEEK
     Route: 065
  1113. MIRTAZAPINE [Concomitant]
     Active Substance: MIRTAZAPINE
     Indication: Product used for unknown indication
     Route: 048
     Dates: start: 201510
  1114. MORPHINE [Concomitant]
     Active Substance: MORPHINE
     Indication: Pain
     Route: 048
     Dates: start: 201510
  1115. MORPHINE [Concomitant]
     Active Substance: MORPHINE
     Route: 065
     Dates: start: 201509
  1116. MORPHINE [Concomitant]
     Active Substance: MORPHINE
     Route: 065
     Dates: start: 201509
  1117. MORPHINE [Concomitant]
     Active Substance: MORPHINE
     Route: 050
     Dates: start: 201509
  1118. MORPHINE [Concomitant]
     Active Substance: MORPHINE
     Route: 048
     Dates: start: 201509
  1119. MORPHINE [Concomitant]
     Active Substance: MORPHINE
     Route: 048
     Dates: start: 201509
  1120. MORPHINE [Concomitant]
     Active Substance: MORPHINE
     Route: 048
     Dates: start: 201509
  1121. MORPHINE [Concomitant]
     Active Substance: MORPHINE
     Route: 048
  1122. DENOSUMAB [Concomitant]
     Active Substance: DENOSUMAB
     Indication: Metastases to bone
     Route: 058
     Dates: start: 20150930
  1123. DENOSUMAB [Concomitant]
     Active Substance: DENOSUMAB
     Indication: Gastrooesophageal reflux disease
  1124. DULOXETINE [Concomitant]
     Active Substance: DULOXETINE
     Indication: Breast cancer metastatic
     Route: 042
     Dates: start: 20150930, end: 20151021
  1125. AMOXICILLIN\CLAVULANATE POTASSIUM [Concomitant]
     Active Substance: AMOXICILLIN\CLAVULANATE POTASSIUM
     Indication: Febrile neutropenia
     Dates: start: 20151122, end: 20151125
  1126. AMOXICILLIN\CLAVULANATE POTASSIUM [Concomitant]
     Active Substance: AMOXICILLIN\CLAVULANATE POTASSIUM
     Dates: start: 20151122
  1127. AMOXICILLIN\CLAVULANATE POTASSIUM [Concomitant]
     Active Substance: AMOXICILLIN\CLAVULANATE POTASSIUM
     Dates: start: 20151111
  1128. AMOXICILLIN\CLAVULANATE POTASSIUM [Concomitant]
     Active Substance: AMOXICILLIN\CLAVULANATE POTASSIUM
     Route: 065
     Dates: start: 20151122, end: 20151122

REACTIONS (42)
  - Affective disorder [Fatal]
  - Alopecia [Fatal]
  - Cellulitis [Fatal]
  - COVID-19 [Fatal]
  - Delusion of grandeur [Fatal]
  - Diarrhoea [Fatal]
  - Disease progression [Fatal]
  - Dyspepsia [Fatal]
  - Extrapyramidal disorder [Fatal]
  - Extrapyramidal disorder [Fatal]
  - Fatigue [Fatal]
  - Fatigue [Fatal]
  - Fatigue [Fatal]
  - Hallucination, auditory [Fatal]
  - Hospitalisation [Fatal]
  - Leukocytosis [Fatal]
  - Leukocytosis [Fatal]
  - Leukocytosis [Fatal]
  - Leukopenia [Fatal]
  - Lymphocyte count abnormal [Fatal]
  - Lymphocyte count abnormal [Fatal]
  - Lymphocyte count decreased [Fatal]
  - Mucosal inflammation [Fatal]
  - Nausea [Fatal]
  - Neoplasm progression [Fatal]
  - Neuropathy peripheral [Fatal]
  - Neutropenia [Fatal]
  - Neutrophil count decreased [Fatal]
  - Neutrophil count increased [Fatal]
  - Platelet count decreased [Fatal]
  - Psychotic disorder [Fatal]
  - Rhinalgia [Fatal]
  - SARS-CoV-2 test positive [Fatal]
  - Schizophrenia [Fatal]
  - Seizure [Fatal]
  - Thrombocytopenia [Fatal]
  - Incorrect dose administered [Fatal]
  - Intentional product misuse [Fatal]
  - Off label use [Fatal]
  - Off label use [Fatal]
  - Off label use [Fatal]
  - Overdose [Fatal]

NARRATIVE: CASE EVENT DATE: 20151101
